FAERS Safety Report 23432740 (Version 44)
Quarter: 2025Q3

REPORT INFORMATION
  Report Type: Spontaneous
  Country: GB (occurrence: GB)
  Receive Date: 20240123
  Receipt Date: 20250917
  Transmission Date: 20251021
  Serious: Yes (Death, Hospitalization, Other)
  Sender: CELLTRION
  Company Number: GB-CELLTRION INC.-2022GB022451

PATIENT

DRUGS (1384)
  1. TRASTUZUMAB [Suspect]
     Active Substance: TRASTUZUMAB
     Indication: Breast cancer metastatic
     Dosage: 609 MG, 2/W, (CUMULATIVE DOSE OF FIRST REACTION: 5575.25 MG)
     Route: 042
     Dates: start: 20150930
  2. TRASTUZUMAB [Suspect]
     Active Substance: TRASTUZUMAB
     Route: 042
     Dates: start: 20150930
  3. TRASTUZUMAB [Suspect]
     Active Substance: TRASTUZUMAB
     Route: 042
     Dates: start: 20150930
  4. TRASTUZUMAB [Suspect]
     Active Substance: TRASTUZUMAB
     Dosage: 609 MILLIGRAM, Q3W (1799.20 MG)/30-SEP-2015/ 609 MILLIGRAM, Q2WK (ADDITIONAL INFORMATION ON DRUG (FR
     Route: 042
     Dates: start: 20150930
  5. TRASTUZUMAB [Suspect]
     Active Substance: TRASTUZUMAB
     Dosage: 1218 MILLIGRAM, QWK (609MG, 2/W)
     Route: 042
     Dates: start: 20150930
  6. TRASTUZUMAB [Suspect]
     Active Substance: TRASTUZUMAB
     Route: 042
     Dates: start: 20150930
  7. TRASTUZUMAB [Suspect]
     Active Substance: TRASTUZUMAB
     Dosage: 1218 MG
     Route: 065
     Dates: start: 20151130
  8. TRASTUZUMAB [Suspect]
     Active Substance: TRASTUZUMAB
  9. TRASTUZUMAB [Suspect]
     Active Substance: TRASTUZUMAB
     Dosage: 1218 MILLIGRAM, QWK (206893.25 MG)
     Route: 042
     Dates: start: 20150930
  10. TRASTUZUMAB [Suspect]
     Active Substance: TRASTUZUMAB
     Dates: start: 20150930
  11. TRASTUZUMAB [Suspect]
     Active Substance: TRASTUZUMAB
     Dosage: 1218 MG, QWK (CUMULATIVE DOSE:5575.25 MG), (ADDITIONAL INFORMATION ON DRUG (FREE TEXT): CLOZARIL ADD
     Route: 042
     Dates: start: 20150930
  12. TRASTUZUMAB [Suspect]
     Active Substance: TRASTUZUMAB
     Route: 042
     Dates: start: 20150930
  13. TRASTUZUMAB [Suspect]
     Active Substance: TRASTUZUMAB
     Route: 065
  14. TRASTUZUMAB [Suspect]
     Active Substance: TRASTUZUMAB
     Dates: start: 20150930
  15. TRASTUZUMAB [Suspect]
     Active Substance: TRASTUZUMAB
     Dosage: 609 MG, 2/W
     Route: 042
     Dates: start: 20150930
  16. TRASTUZUMAB [Suspect]
     Active Substance: TRASTUZUMAB
     Route: 065
  17. TRASTUZUMAB [Suspect]
     Active Substance: TRASTUZUMAB
     Route: 065
     Dates: start: 20150930
  18. TRASTUZUMAB [Suspect]
     Active Substance: TRASTUZUMAB
     Route: 042
     Dates: start: 20150930
  19. TRASTUZUMAB [Suspect]
     Active Substance: TRASTUZUMAB
     Route: 065
     Dates: start: 20150930
  20. TRASTUZUMAB [Suspect]
     Active Substance: TRASTUZUMAB
     Route: 065
     Dates: start: 20150930
  21. TRASTUZUMAB [Suspect]
     Active Substance: TRASTUZUMAB
     Route: 065
  22. TRASTUZUMAB [Suspect]
     Active Substance: TRASTUZUMAB
     Route: 065
  23. TRASTUZUMAB [Suspect]
     Active Substance: TRASTUZUMAB
     Dosage: 1827 MG, QWK (CUMULATIVE DOSE TO FIRST REACTION: 8362.875 MG), (ADDITIONAL INFORMATION ON DRUG (FREE
     Route: 065
     Dates: start: 20150930
  24. TRASTUZUMAB [Suspect]
     Active Substance: TRASTUZUMAB
     Route: 065
     Dates: start: 20150930
  25. TRASTUZUMAB [Suspect]
     Active Substance: TRASTUZUMAB
     Dosage: 1218 MILLIGRAM, WEEKLY
     Route: 042
     Dates: start: 20150930
  26. TRASTUZUMAB [Suspect]
     Active Substance: TRASTUZUMAB
     Dosage: 609 MILLIGRAM, Q2WK (CUMULATIVE DOSE TO FIRST REACTION: 1393.8125 MG), (ADDITIONAL INFORMATION ON DR
     Route: 042
     Dates: start: 20150930
  27. TRASTUZUMAB [Suspect]
     Active Substance: TRASTUZUMAB
     Dosage: 609 MILLIGRAM, Q2WK (ADDITIONAL INFORMATION ON DRUG (FREE TEXT): CLOZARIL ADDITIONAL INFO: OFF LABEL
     Route: 042
     Dates: start: 20150930
  28. TRASTUZUMAB [Suspect]
     Active Substance: TRASTUZUMAB
     Route: 065
     Dates: start: 20150930
  29. TRASTUZUMAB [Suspect]
     Active Substance: TRASTUZUMAB
     Route: 065
     Dates: start: 20151130
  30. TRASTUZUMAB [Suspect]
     Active Substance: TRASTUZUMAB
     Dosage: 1218 MILLIGRAM, QWK (ADDITIONAL INFORMATION ON DRUG (FREE TEXT): CLOZARIL ADDITIONAL INFO: OFF LABEL
     Route: 065
     Dates: start: 20150930
  31. TRASTUZUMAB [Suspect]
     Active Substance: TRASTUZUMAB
     Dosage: 1827 MILLIGRAM, QWK (ADDITIONAL INFORMATION ON DRUG (FREE TEXT): CLOZARIL ADDITIONAL INFO: OFF LABEL
     Route: 065
     Dates: start: 20150930
  32. TRASTUZUMAB [Suspect]
     Active Substance: TRASTUZUMAB
     Route: 065
     Dates: start: 20150930
  33. TRASTUZUMAB [Suspect]
     Active Substance: TRASTUZUMAB
     Route: 065
  34. TRASTUZUMAB [Suspect]
     Active Substance: TRASTUZUMAB
     Dosage: 1218 MILLIGRAM, QWK (ADDITIONAL INFORMATION ON DRUG (FREE TEXT): CLOZARIL ADDITIONAL INFO: OFF LABEL
     Route: 042
     Dates: start: 20150930
  35. TRASTUZUMAB [Suspect]
     Active Substance: TRASTUZUMAB
     Route: 042
     Dates: start: 20150930
  36. TRASTUZUMAB [Suspect]
     Active Substance: TRASTUZUMAB
     Dates: start: 20150930
  37. TRASTUZUMAB [Suspect]
     Active Substance: TRASTUZUMAB
     Dosage: 609 MG, 2/W
     Dates: start: 20150930
  38. TRASTUZUMAB [Suspect]
     Active Substance: TRASTUZUMAB
     Dosage: 609 MG, BIW (1799.20 MG) (CUMULATIVE DOSE TO FIRST REACTION: 2742.3125 MG)
     Route: 042
     Dates: start: 20150930
  39. TRASTUZUMAB [Suspect]
     Active Substance: TRASTUZUMAB
     Dosage: 1827 MILLIGRAM
     Route: 065
     Dates: start: 20150930
  40. TRASTUZUMAB [Suspect]
     Active Substance: TRASTUZUMAB
     Dosage: 1218 MILLIGRAM
     Route: 065
     Dates: start: 20150930
  41. TRASTUZUMAB [Suspect]
     Active Substance: TRASTUZUMAB
     Dosage: 1218 MG, QWK (CUMULATIVE DOSE:5575.25 MG), (ADDITIONAL INFORMATION ON DRUG (FREE TEXT): CLOZARIL ADD
     Route: 065
     Dates: start: 20150930
  42. TRASTUZUMAB [Suspect]
     Active Substance: TRASTUZUMAB
     Dosage: 1827 MILLIGRAM, QWK
     Dates: start: 20150930
  43. TRASTUZUMAB [Suspect]
     Active Substance: TRASTUZUMAB
     Route: 065
     Dates: start: 20150930
  44. TRASTUZUMAB [Suspect]
     Active Substance: TRASTUZUMAB
     Route: 042
     Dates: start: 20150930
  45. TRASTUZUMAB [Suspect]
     Active Substance: TRASTUZUMAB
     Route: 065
     Dates: start: 20151130
  46. TRASTUZUMAB [Suspect]
     Active Substance: TRASTUZUMAB
  47. TRASTUZUMAB [Suspect]
     Active Substance: TRASTUZUMAB
     Dates: start: 20150930
  48. TRASTUZUMAB [Suspect]
     Active Substance: TRASTUZUMAB
     Dosage: 1218 MG (CUMULATIVE DOSE: 8362.875 MG)/1218 MILLIGRAM, QWK
     Route: 065
     Dates: start: 20150930
  49. TRASTUZUMAB [Suspect]
     Active Substance: TRASTUZUMAB
     Route: 065
  50. TRASTUZUMAB [Suspect]
     Active Substance: TRASTUZUMAB
     Route: 065
  51. TRASTUZUMAB [Suspect]
     Active Substance: TRASTUZUMAB
     Indication: Breast cancer metastatic
     Route: 065
     Dates: start: 20150930
  52. TRASTUZUMAB [Suspect]
     Active Substance: TRASTUZUMAB
     Dosage: 1827 MILLIGRAM, QWK (CUMULATIVE DOSE: 8362.875 MG)
     Route: 065
     Dates: start: 20150930
  53. TRASTUZUMAB [Suspect]
     Active Substance: TRASTUZUMAB
     Route: 042
     Dates: start: 20150930
  54. TRASTUZUMAB [Suspect]
     Active Substance: TRASTUZUMAB
     Dosage: 1218 MILLIGRAM, QWK
     Route: 042
     Dates: start: 20150930
  55. TRASTUZUMAB [Suspect]
     Active Substance: TRASTUZUMAB
     Route: 065
     Dates: start: 20150930
  56. TRASTUZUMAB [Suspect]
     Active Substance: TRASTUZUMAB
     Dosage: 1827 MG, 1/WEEK (609 MG, 3/W, CUMULATIVE DOSE TO FIRST REACTION: 8362.875 MG, ADDITIONAL INFORMATION
     Route: 042
     Dates: start: 20150930
  57. TRASTUZUMAB [Suspect]
     Active Substance: TRASTUZUMAB
     Route: 065
  58. TRASTUZUMAB [Suspect]
     Active Substance: TRASTUZUMAB
     Route: 042
  59. TRASTUZUMAB [Suspect]
     Active Substance: TRASTUZUMAB
     Dates: start: 20150930
  60. TRASTUZUMAB [Suspect]
     Active Substance: TRASTUZUMAB
  61. TRASTUZUMAB [Suspect]
     Active Substance: TRASTUZUMAB
     Dates: start: 20150930
  62. TRASTUZUMAB [Suspect]
     Active Substance: TRASTUZUMAB
     Route: 065
     Dates: start: 20150930
  63. TRASTUZUMAB [Suspect]
     Active Substance: TRASTUZUMAB
     Route: 065
  64. TRASTUZUMAB [Suspect]
     Active Substance: TRASTUZUMAB
     Route: 042
     Dates: start: 20150930
  65. TRASTUZUMAB [Suspect]
     Active Substance: TRASTUZUMAB
     Route: 042
     Dates: start: 20150930
  66. TRASTUZUMAB [Suspect]
     Active Substance: TRASTUZUMAB
     Dates: start: 20151130
  67. TRASTUZUMAB [Suspect]
     Active Substance: TRASTUZUMAB
     Route: 042
     Dates: start: 20150930
  68. TRASTUZUMAB [Suspect]
     Active Substance: TRASTUZUMAB
     Dosage: 1218 MG, WE (609 MG, 2/W)
     Dates: start: 20150930
  69. TRASTUZUMAB [Suspect]
     Active Substance: TRASTUZUMAB
     Route: 042
     Dates: start: 20150930
  70. TRASTUZUMAB [Suspect]
     Active Substance: TRASTUZUMAB
  71. TRASTUZUMAB [Suspect]
     Active Substance: TRASTUZUMAB
     Dosage: 1218 MG, WE
     Route: 050
     Dates: start: 20150930
  72. TRASTUZUMAB [Suspect]
     Active Substance: TRASTUZUMAB
     Dosage: 1827 MG, QWK
     Route: 065
     Dates: start: 20150930
  73. TRASTUZUMAB [Suspect]
     Active Substance: TRASTUZUMAB
     Route: 065
     Dates: start: 20150930
  74. TRASTUZUMAB [Suspect]
     Active Substance: TRASTUZUMAB
     Dosage: 420 MILLIGRAM, QWK (420 MILLIGRAM, QWK (1827 MG QWK) (WE (609 MG, 3/W) /INTRAVENOUS (NOT OTHERWISE S
     Route: 042
     Dates: start: 20150930
  75. TRASTUZUMAB [Suspect]
     Active Substance: TRASTUZUMAB
     Route: 050
     Dates: start: 20150930
  76. TRASTUZUMAB [Suspect]
     Active Substance: TRASTUZUMAB
     Dosage: 1827 MG, 1/WEEK
     Route: 042
     Dates: start: 20230930
  77. TRASTUZUMAB [Suspect]
     Active Substance: TRASTUZUMAB
     Dosage: 840 MG, QW
     Route: 065
  78. TRASTUZUMAB [Suspect]
     Active Substance: TRASTUZUMAB
     Route: 065
  79. TRASTUZUMAB [Suspect]
     Active Substance: TRASTUZUMAB
     Route: 065
  80. TRASTUZUMAB [Suspect]
     Active Substance: TRASTUZUMAB
     Dosage: 600 MILLIGRAM, QW
     Dates: start: 20150930
  81. TRASTUZUMAB [Suspect]
     Active Substance: TRASTUZUMAB
     Dosage: 840 MG, Q3W
  82. TRASTUZUMAB [Suspect]
     Active Substance: TRASTUZUMAB
     Dosage: 1218 MG, 1/WEEK (1218 MG, QW(CUMULATIVE DOSE 5575.25MG))
     Route: 065
     Dates: start: 20150930
  83. TRASTUZUMAB [Suspect]
     Active Substance: TRASTUZUMAB
     Dosage: 1218 MG, 1/WEEK (1218, QW)
     Dates: start: 20151130
  84. TRASTUZUMAB [Suspect]
     Active Substance: TRASTUZUMAB
     Dosage: 609 MG, Q2WEEKS (609 MG, BIW (1799.20 MG))
     Route: 042
     Dates: start: 20150930
  85. TRASTUZUMAB [Suspect]
     Active Substance: TRASTUZUMAB
     Route: 042
     Dates: start: 20150930
  86. TRASTUZUMAB [Suspect]
     Active Substance: TRASTUZUMAB
     Dates: start: 20150930
  87. TRASTUZUMAB [Suspect]
     Active Substance: TRASTUZUMAB
     Dosage: 3654 MILLIGRAM, QW
     Dates: start: 20151130
  88. HALOPERIDOL [Suspect]
     Active Substance: HALOPERIDOL
     Indication: Schizophrenia
     Route: 048
  89. HALOPERIDOL [Suspect]
     Active Substance: HALOPERIDOL
     Route: 048
  90. HALOPERIDOL [Suspect]
     Active Substance: HALOPERIDOL
     Route: 048
  91. HALOPERIDOL [Suspect]
     Active Substance: HALOPERIDOL
     Route: 048
  92. HALOPERIDOL [Suspect]
     Active Substance: HALOPERIDOL
     Route: 048
  93. HALOPERIDOL [Suspect]
     Active Substance: HALOPERIDOL
     Route: 048
  94. HALOPERIDOL [Suspect]
     Active Substance: HALOPERIDOL
     Route: 048
  95. HALOPERIDOL [Suspect]
     Active Substance: HALOPERIDOL
     Route: 048
  96. HALOPERIDOL [Suspect]
     Active Substance: HALOPERIDOL
     Route: 048
  97. HALOPERIDOL [Suspect]
     Active Substance: HALOPERIDOL
     Route: 048
  98. HALOPERIDOL [Suspect]
     Active Substance: HALOPERIDOL
     Route: 048
  99. HALOPERIDOL [Suspect]
     Active Substance: HALOPERIDOL
  100. HALOPERIDOL [Suspect]
     Active Substance: HALOPERIDOL
     Route: 048
  101. HALOPERIDOL [Suspect]
     Active Substance: HALOPERIDOL
     Route: 065
  102. HALOPERIDOL [Suspect]
     Active Substance: HALOPERIDOL
     Route: 048
  103. HALOPERIDOL [Suspect]
     Active Substance: HALOPERIDOL
     Route: 048
  104. HALOPERIDOL [Suspect]
     Active Substance: HALOPERIDOL
     Route: 065
  105. HALOPERIDOL [Suspect]
     Active Substance: HALOPERIDOL
     Route: 048
  106. HALOPERIDOL [Suspect]
     Active Substance: HALOPERIDOL
     Route: 048
  107. HALOPERIDOL [Suspect]
     Active Substance: HALOPERIDOL
     Route: 048
  108. HALOPERIDOL [Suspect]
     Active Substance: HALOPERIDOL
     Route: 048
  109. HALOPERIDOL [Suspect]
     Active Substance: HALOPERIDOL
     Route: 048
  110. HALOPERIDOL [Suspect]
     Active Substance: HALOPERIDOL
     Route: 048
  111. HALOPERIDOL [Suspect]
     Active Substance: HALOPERIDOL
     Route: 048
  112. HALOPERIDOL [Suspect]
     Active Substance: HALOPERIDOL
     Route: 048
  113. HALOPERIDOL [Suspect]
     Active Substance: HALOPERIDOL
     Route: 048
  114. HALOPERIDOL [Suspect]
     Active Substance: HALOPERIDOL
     Route: 048
  115. HALOPERIDOL [Suspect]
     Active Substance: HALOPERIDOL
  116. HALOPERIDOL [Suspect]
     Active Substance: HALOPERIDOL
     Route: 048
  117. HALOPERIDOL [Suspect]
     Active Substance: HALOPERIDOL
     Route: 048
  118. HALOPERIDOL [Suspect]
     Active Substance: HALOPERIDOL
     Route: 048
  119. HALOPERIDOL [Suspect]
     Active Substance: HALOPERIDOL
     Route: 048
  120. HALOPERIDOL [Suspect]
     Active Substance: HALOPERIDOL
     Route: 048
  121. HALOPERIDOL [Suspect]
     Active Substance: HALOPERIDOL
  122. HALOPERIDOL [Suspect]
     Active Substance: HALOPERIDOL
  123. HALOPERIDOL [Suspect]
     Active Substance: HALOPERIDOL
     Route: 048
  124. HALOPERIDOL [Suspect]
     Active Substance: HALOPERIDOL
     Route: 048
  125. HALOPERIDOL [Suspect]
     Active Substance: HALOPERIDOL
  126. HALOPERIDOL [Suspect]
     Active Substance: HALOPERIDOL
  127. HALOPERIDOL [Suspect]
     Active Substance: HALOPERIDOL
     Route: 048
  128. HALOPERIDOL [Suspect]
     Active Substance: HALOPERIDOL
     Route: 048
  129. HALOPERIDOL [Suspect]
     Active Substance: HALOPERIDOL
     Route: 048
  130. HALOPERIDOL [Suspect]
     Active Substance: HALOPERIDOL
     Route: 048
  131. HALOPERIDOL [Suspect]
     Active Substance: HALOPERIDOL
     Route: 048
  132. HALOPERIDOL [Suspect]
     Active Substance: HALOPERIDOL
     Route: 048
  133. HALOPERIDOL [Suspect]
     Active Substance: HALOPERIDOL
     Route: 048
  134. HALOPERIDOL [Suspect]
     Active Substance: HALOPERIDOL
     Route: 048
  135. HALOPERIDOL [Suspect]
     Active Substance: HALOPERIDOL
     Route: 048
  136. HALOPERIDOL [Suspect]
     Active Substance: HALOPERIDOL
     Route: 048
  137. HALOPERIDOL [Suspect]
     Active Substance: HALOPERIDOL
     Route: 048
  138. HALOPERIDOL [Suspect]
     Active Substance: HALOPERIDOL
     Indication: Schizophrenia
     Route: 048
  139. HALOPERIDOL [Suspect]
     Active Substance: HALOPERIDOL
     Indication: Schizophrenia
     Route: 048
  140. HALOPERIDOL [Suspect]
     Active Substance: HALOPERIDOL
     Route: 048
  141. HALOPERIDOL [Suspect]
     Active Substance: HALOPERIDOL
     Route: 048
  142. HALOPERIDOL [Suspect]
     Active Substance: HALOPERIDOL
     Route: 048
  143. HALOPERIDOL [Suspect]
     Active Substance: HALOPERIDOL
     Route: 048
  144. HALOPERIDOL [Suspect]
     Active Substance: HALOPERIDOL
  145. HALOPERIDOL [Suspect]
     Active Substance: HALOPERIDOL
     Route: 065
  146. HALOPERIDOL [Suspect]
     Active Substance: HALOPERIDOL
     Route: 048
  147. HALOPERIDOL [Suspect]
     Active Substance: HALOPERIDOL
     Route: 048
  148. HALOPERIDOL [Suspect]
     Active Substance: HALOPERIDOL
     Route: 048
  149. HALOPERIDOL [Suspect]
     Active Substance: HALOPERIDOL
     Route: 048
  150. HALOPERIDOL [Suspect]
     Active Substance: HALOPERIDOL
  151. HALOPERIDOL [Suspect]
     Active Substance: HALOPERIDOL
     Route: 048
  152. HALOPERIDOL [Suspect]
     Active Substance: HALOPERIDOL
  153. HALOPERIDOL [Suspect]
     Active Substance: HALOPERIDOL
     Route: 065
  154. HALOPERIDOL [Suspect]
     Active Substance: HALOPERIDOL
  155. HALOPERIDOL [Suspect]
     Active Substance: HALOPERIDOL
     Route: 048
  156. HALOPERIDOL [Suspect]
     Active Substance: HALOPERIDOL
     Route: 048
  157. HALOPERIDOL [Suspect]
     Active Substance: HALOPERIDOL
     Route: 048
  158. HALOPERIDOL [Suspect]
     Active Substance: HALOPERIDOL
  159. HALOPERIDOL [Suspect]
     Active Substance: HALOPERIDOL
     Route: 048
  160. HALOPERIDOL [Suspect]
     Active Substance: HALOPERIDOL
     Route: 048
  161. HALOPERIDOL [Suspect]
     Active Substance: HALOPERIDOL
     Route: 048
  162. HALOPERIDOL [Suspect]
     Active Substance: HALOPERIDOL
     Route: 048
  163. HALOPERIDOL [Suspect]
     Active Substance: HALOPERIDOL
     Route: 048
  164. HALOPERIDOL [Suspect]
     Active Substance: HALOPERIDOL
     Route: 048
  165. HALOPERIDOL [Suspect]
     Active Substance: HALOPERIDOL
     Route: 065
  166. HALOPERIDOL [Suspect]
     Active Substance: HALOPERIDOL
     Route: 065
  167. HALOPERIDOL [Suspect]
     Active Substance: HALOPERIDOL
     Route: 048
  168. HALOPERIDOL [Suspect]
     Active Substance: HALOPERIDOL
     Route: 048
  169. HALOPERIDOL [Suspect]
     Active Substance: HALOPERIDOL
     Route: 048
  170. HALOPERIDOL [Suspect]
     Active Substance: HALOPERIDOL
     Route: 048
  171. HALOPERIDOL [Suspect]
     Active Substance: HALOPERIDOL
     Route: 065
  172. HALOPERIDOL [Suspect]
     Active Substance: HALOPERIDOL
     Route: 048
  173. HALOPERIDOL [Suspect]
     Active Substance: HALOPERIDOL
     Route: 065
  174. HALOPERIDOL [Suspect]
     Active Substance: HALOPERIDOL
     Route: 065
  175. HALOPERIDOL [Suspect]
     Active Substance: HALOPERIDOL
     Route: 065
  176. HALOPERIDOL [Suspect]
     Active Substance: HALOPERIDOL
     Route: 048
  177. HALOPERIDOL [Suspect]
     Active Substance: HALOPERIDOL
     Route: 048
  178. HALOPERIDOL [Suspect]
     Active Substance: HALOPERIDOL
     Route: 048
  179. HALOPERIDOL [Suspect]
     Active Substance: HALOPERIDOL
  180. HALOPERIDOL [Suspect]
     Active Substance: HALOPERIDOL
     Route: 048
  181. HALOPERIDOL [Suspect]
     Active Substance: HALOPERIDOL
  182. HALOPERIDOL [Suspect]
     Active Substance: HALOPERIDOL
     Route: 048
  183. HALOPERIDOL [Suspect]
     Active Substance: HALOPERIDOL
     Route: 048
  184. HALOPERIDOL [Suspect]
     Active Substance: HALOPERIDOL
     Route: 065
  185. HALOPERIDOL [Suspect]
     Active Substance: HALOPERIDOL
     Route: 065
  186. HALOPERIDOL [Suspect]
     Active Substance: HALOPERIDOL
     Route: 048
  187. HALOPERIDOL [Suspect]
     Active Substance: HALOPERIDOL
     Route: 048
  188. HALOPERIDOL [Suspect]
     Active Substance: HALOPERIDOL
     Indication: Product used for unknown indication
     Route: 048
  189. HALOPERIDOL [Suspect]
     Active Substance: HALOPERIDOL
     Route: 048
  190. HALOPERIDOL [Suspect]
     Active Substance: HALOPERIDOL
     Route: 048
  191. HALOPERIDOL [Suspect]
     Active Substance: HALOPERIDOL
     Route: 048
  192. HALOPERIDOL [Suspect]
     Active Substance: HALOPERIDOL
     Route: 048
  193. HALOPERIDOL [Suspect]
     Active Substance: HALOPERIDOL
     Route: 048
  194. HALOPERIDOL [Suspect]
     Active Substance: HALOPERIDOL
     Route: 048
  195. HALOPERIDOL [Suspect]
     Active Substance: HALOPERIDOL
     Route: 048
  196. HALOPERIDOL [Suspect]
     Active Substance: HALOPERIDOL
     Route: 048
  197. HALOPERIDOL [Suspect]
     Active Substance: HALOPERIDOL
     Route: 048
  198. HALOPERIDOL [Suspect]
     Active Substance: HALOPERIDOL
     Route: 048
  199. HALOPERIDOL [Suspect]
     Active Substance: HALOPERIDOL
     Route: 048
  200. HALOPERIDOL [Suspect]
     Active Substance: HALOPERIDOL
     Route: 048
  201. HALOPERIDOL [Suspect]
     Active Substance: HALOPERIDOL
     Route: 048
  202. HALOPERIDOL [Suspect]
     Active Substance: HALOPERIDOL
     Route: 048
  203. HALOPERIDOL [Suspect]
     Active Substance: HALOPERIDOL
     Route: 048
  204. HALOPERIDOL [Suspect]
     Active Substance: HALOPERIDOL
     Route: 048
  205. HALOPERIDOL [Suspect]
     Active Substance: HALOPERIDOL
     Route: 048
  206. HALOPERIDOL [Suspect]
     Active Substance: HALOPERIDOL
     Indication: Schizophrenia
     Route: 048
  207. HALOPERIDOL [Suspect]
     Active Substance: HALOPERIDOL
     Indication: Schizophrenia
  208. HALOPERIDOL [Suspect]
     Active Substance: HALOPERIDOL
  209. HALOPERIDOL [Suspect]
     Active Substance: HALOPERIDOL
  210. HALOPERIDOL [Suspect]
     Active Substance: HALOPERIDOL
  211. HALOPERIDOL [Suspect]
     Active Substance: HALOPERIDOL
  212. HALOPERIDOL [Suspect]
     Active Substance: HALOPERIDOL
  213. HALOPERIDOL [Suspect]
     Active Substance: HALOPERIDOL
  214. HALOPERIDOL [Suspect]
     Active Substance: HALOPERIDOL
  215. HALOPERIDOL [Suspect]
     Active Substance: HALOPERIDOL
  216. HALOPERIDOL [Suspect]
     Active Substance: HALOPERIDOL
  217. HALOPERIDOL [Suspect]
     Active Substance: HALOPERIDOL
  218. HALOPERIDOL [Suspect]
     Active Substance: HALOPERIDOL
  219. HALOPERIDOL [Suspect]
     Active Substance: HALOPERIDOL
  220. HALOPERIDOL [Suspect]
     Active Substance: HALOPERIDOL
  221. HALOPERIDOL [Suspect]
     Active Substance: HALOPERIDOL
  222. HALOPERIDOL [Suspect]
     Active Substance: HALOPERIDOL
  223. HALOPERIDOL [Suspect]
     Active Substance: HALOPERIDOL
  224. HALOPERIDOL [Suspect]
     Active Substance: HALOPERIDOL
  225. HALOPERIDOL [Suspect]
     Active Substance: HALOPERIDOL
  226. HALOPERIDOL [Suspect]
     Active Substance: HALOPERIDOL
  227. HALOPERIDOL [Suspect]
     Active Substance: HALOPERIDOL
  228. HALOPERIDOL [Suspect]
     Active Substance: HALOPERIDOL
  229. HALOPERIDOL [Suspect]
     Active Substance: HALOPERIDOL
  230. HALOPERIDOL [Suspect]
     Active Substance: HALOPERIDOL
  231. HALOPERIDOL [Suspect]
     Active Substance: HALOPERIDOL
  232. HALOPERIDOL [Suspect]
     Active Substance: HALOPERIDOL
  233. HALOPERIDOL [Suspect]
     Active Substance: HALOPERIDOL
  234. HALOPERIDOL [Suspect]
     Active Substance: HALOPERIDOL
  235. HALOPERIDOL [Suspect]
     Active Substance: HALOPERIDOL
  236. LORAZEPAM [Suspect]
     Active Substance: LORAZEPAM
     Indication: Schizophrenia
     Route: 048
  237. LORAZEPAM [Suspect]
     Active Substance: LORAZEPAM
     Indication: Schizophrenia
     Route: 048
  238. LORAZEPAM [Suspect]
     Active Substance: LORAZEPAM
     Route: 048
  239. LORAZEPAM [Suspect]
     Active Substance: LORAZEPAM
     Route: 048
  240. LORAZEPAM [Suspect]
     Active Substance: LORAZEPAM
     Route: 048
  241. LORAZEPAM [Suspect]
     Active Substance: LORAZEPAM
     Route: 048
  242. LORAZEPAM [Suspect]
     Active Substance: LORAZEPAM
     Route: 048
  243. LORAZEPAM [Suspect]
     Active Substance: LORAZEPAM
     Route: 048
  244. LORAZEPAM [Suspect]
     Active Substance: LORAZEPAM
     Route: 048
  245. LORAZEPAM [Suspect]
     Active Substance: LORAZEPAM
     Route: 048
  246. LORAZEPAM [Suspect]
     Active Substance: LORAZEPAM
  247. LORAZEPAM [Suspect]
     Active Substance: LORAZEPAM
     Route: 048
  248. LORAZEPAM [Suspect]
     Active Substance: LORAZEPAM
     Route: 048
  249. LORAZEPAM [Suspect]
     Active Substance: LORAZEPAM
     Route: 050
  250. LORAZEPAM [Suspect]
     Active Substance: LORAZEPAM
     Route: 048
  251. LORAZEPAM [Suspect]
     Active Substance: LORAZEPAM
  252. LORAZEPAM [Suspect]
     Active Substance: LORAZEPAM
     Route: 048
  253. LORAZEPAM [Suspect]
     Active Substance: LORAZEPAM
     Route: 048
  254. LORAZEPAM [Suspect]
     Active Substance: LORAZEPAM
     Route: 048
  255. LORAZEPAM [Suspect]
     Active Substance: LORAZEPAM
     Route: 048
  256. LORAZEPAM [Suspect]
     Active Substance: LORAZEPAM
     Route: 048
  257. LORAZEPAM [Suspect]
     Active Substance: LORAZEPAM
     Route: 048
  258. LORAZEPAM [Suspect]
     Active Substance: LORAZEPAM
     Route: 048
  259. LORAZEPAM [Suspect]
     Active Substance: LORAZEPAM
     Route: 048
  260. LORAZEPAM [Suspect]
     Active Substance: LORAZEPAM
     Route: 048
  261. LORAZEPAM [Suspect]
     Active Substance: LORAZEPAM
  262. LORAZEPAM [Suspect]
     Active Substance: LORAZEPAM
     Dates: start: 20060714
  263. LORAZEPAM [Suspect]
     Active Substance: LORAZEPAM
     Indication: Schizophrenia
     Route: 048
  264. LORAZEPAM [Suspect]
     Active Substance: LORAZEPAM
     Indication: Schizophrenia
  265. LORAZEPAM [Suspect]
     Active Substance: LORAZEPAM
     Indication: Schizophrenia
     Route: 048
  266. LORAZEPAM [Suspect]
     Active Substance: LORAZEPAM
  267. LORAZEPAM [Suspect]
     Active Substance: LORAZEPAM
  268. LORAZEPAM [Suspect]
     Active Substance: LORAZEPAM
  269. LORAZEPAM [Suspect]
     Active Substance: LORAZEPAM
  270. LORAZEPAM [Suspect]
     Active Substance: LORAZEPAM
  271. LORAZEPAM [Suspect]
     Active Substance: LORAZEPAM
  272. LORAZEPAM [Suspect]
     Active Substance: LORAZEPAM
  273. LORAZEPAM [Suspect]
     Active Substance: LORAZEPAM
     Route: 048
  274. LORAZEPAM [Suspect]
     Active Substance: LORAZEPAM
     Route: 048
  275. LORAZEPAM [Suspect]
     Active Substance: LORAZEPAM
     Route: 048
  276. LORAZEPAM [Suspect]
     Active Substance: LORAZEPAM
     Route: 048
  277. LORAZEPAM [Suspect]
     Active Substance: LORAZEPAM
     Route: 048
  278. LORAZEPAM [Suspect]
     Active Substance: LORAZEPAM
     Route: 050
  279. LORAZEPAM [Suspect]
     Active Substance: LORAZEPAM
     Route: 048
  280. LORAZEPAM [Suspect]
     Active Substance: LORAZEPAM
     Route: 048
  281. LORAZEPAM [Suspect]
     Active Substance: LORAZEPAM
     Route: 048
  282. LORAZEPAM [Suspect]
     Active Substance: LORAZEPAM
     Route: 048
  283. LORAZEPAM [Suspect]
     Active Substance: LORAZEPAM
     Route: 048
  284. LORAZEPAM [Suspect]
     Active Substance: LORAZEPAM
     Route: 048
  285. LORAZEPAM [Suspect]
     Active Substance: LORAZEPAM
     Route: 048
  286. LORAZEPAM [Suspect]
     Active Substance: LORAZEPAM
     Route: 048
  287. ARIPIPRAZOLE [Suspect]
     Active Substance: ARIPIPRAZOLE
     Indication: Schizophrenia
     Route: 048
  288. ARIPIPRAZOLE [Suspect]
     Active Substance: ARIPIPRAZOLE
  289. ARIPIPRAZOLE [Suspect]
     Active Substance: ARIPIPRAZOLE
     Route: 048
  290. ARIPIPRAZOLE [Suspect]
     Active Substance: ARIPIPRAZOLE
     Route: 048
  291. ARIPIPRAZOLE [Suspect]
     Active Substance: ARIPIPRAZOLE
     Route: 048
  292. ARIPIPRAZOLE [Suspect]
     Active Substance: ARIPIPRAZOLE
     Route: 065
  293. ARIPIPRAZOLE [Suspect]
     Active Substance: ARIPIPRAZOLE
     Route: 048
  294. ARIPIPRAZOLE [Suspect]
     Active Substance: ARIPIPRAZOLE
     Route: 048
  295. ARIPIPRAZOLE [Suspect]
     Active Substance: ARIPIPRAZOLE
     Route: 048
  296. ARIPIPRAZOLE [Suspect]
     Active Substance: ARIPIPRAZOLE
     Route: 048
  297. ARIPIPRAZOLE [Suspect]
     Active Substance: ARIPIPRAZOLE
     Route: 048
  298. ARIPIPRAZOLE [Suspect]
     Active Substance: ARIPIPRAZOLE
     Route: 048
  299. ARIPIPRAZOLE [Suspect]
     Active Substance: ARIPIPRAZOLE
     Route: 048
  300. ARIPIPRAZOLE [Suspect]
     Active Substance: ARIPIPRAZOLE
     Route: 048
  301. ARIPIPRAZOLE [Suspect]
     Active Substance: ARIPIPRAZOLE
     Route: 048
  302. ARIPIPRAZOLE [Suspect]
     Active Substance: ARIPIPRAZOLE
     Route: 048
  303. ARIPIPRAZOLE [Suspect]
     Active Substance: ARIPIPRAZOLE
     Route: 048
  304. ARIPIPRAZOLE [Suspect]
     Active Substance: ARIPIPRAZOLE
     Route: 048
  305. ARIPIPRAZOLE [Suspect]
     Active Substance: ARIPIPRAZOLE
     Route: 048
  306. ARIPIPRAZOLE [Suspect]
     Active Substance: ARIPIPRAZOLE
     Indication: Schizophrenia
     Route: 065
  307. ARIPIPRAZOLE [Suspect]
     Active Substance: ARIPIPRAZOLE
     Indication: Schizophrenia
     Route: 065
  308. ARIPIPRAZOLE [Suspect]
     Active Substance: ARIPIPRAZOLE
     Route: 065
  309. ARIPIPRAZOLE [Suspect]
     Active Substance: ARIPIPRAZOLE
     Route: 065
  310. ARIPIPRAZOLE [Suspect]
     Active Substance: ARIPIPRAZOLE
     Route: 048
  311. ARIPIPRAZOLE [Suspect]
     Active Substance: ARIPIPRAZOLE
     Route: 048
  312. ARIPIPRAZOLE [Suspect]
     Active Substance: ARIPIPRAZOLE
     Route: 048
  313. ARIPIPRAZOLE [Suspect]
     Active Substance: ARIPIPRAZOLE
     Route: 065
  314. ARIPIPRAZOLE [Suspect]
     Active Substance: ARIPIPRAZOLE
     Route: 048
  315. ARIPIPRAZOLE [Suspect]
     Active Substance: ARIPIPRAZOLE
     Route: 048
  316. ARIPIPRAZOLE [Suspect]
     Active Substance: ARIPIPRAZOLE
     Route: 048
  317. ARIPIPRAZOLE [Suspect]
     Active Substance: ARIPIPRAZOLE
  318. ARIPIPRAZOLE [Suspect]
     Active Substance: ARIPIPRAZOLE
  319. ARIPIPRAZOLE [Suspect]
     Active Substance: ARIPIPRAZOLE
  320. ARIPIPRAZOLE [Suspect]
     Active Substance: ARIPIPRAZOLE
     Route: 048
  321. ARIPIPRAZOLE [Suspect]
     Active Substance: ARIPIPRAZOLE
     Route: 048
  322. ARIPIPRAZOLE [Suspect]
     Active Substance: ARIPIPRAZOLE
     Route: 048
  323. ARIPIPRAZOLE [Suspect]
     Active Substance: ARIPIPRAZOLE
  324. ARIPIPRAZOLE [Suspect]
     Active Substance: ARIPIPRAZOLE
     Route: 048
  325. ARIPIPRAZOLE [Suspect]
     Active Substance: ARIPIPRAZOLE
  326. ARIPIPRAZOLE [Suspect]
     Active Substance: ARIPIPRAZOLE
     Route: 048
  327. ARIPIPRAZOLE [Suspect]
     Active Substance: ARIPIPRAZOLE
     Indication: Schizophrenia
  328. ARIPIPRAZOLE [Suspect]
     Active Substance: ARIPIPRAZOLE
  329. ARIPIPRAZOLE [Suspect]
     Active Substance: ARIPIPRAZOLE
  330. ARIPIPRAZOLE [Suspect]
     Active Substance: ARIPIPRAZOLE
  331. ARIPIPRAZOLE [Suspect]
     Active Substance: ARIPIPRAZOLE
  332. ARIPIPRAZOLE [Suspect]
     Active Substance: ARIPIPRAZOLE
     Indication: Schizophrenia
  333. ARIPIPRAZOLE [Suspect]
     Active Substance: ARIPIPRAZOLE
     Indication: Schizophrenia
  334. ARIPIPRAZOLE [Suspect]
     Active Substance: ARIPIPRAZOLE
  335. ARIPIPRAZOLE [Suspect]
     Active Substance: ARIPIPRAZOLE
  336. ARIPIPRAZOLE [Suspect]
     Active Substance: ARIPIPRAZOLE
  337. ARIPIPRAZOLE [Suspect]
     Active Substance: ARIPIPRAZOLE
  338. ARIPIPRAZOLE [Suspect]
     Active Substance: ARIPIPRAZOLE
  339. ARIPIPRAZOLE [Suspect]
     Active Substance: ARIPIPRAZOLE
  340. ARIPIPRAZOLE [Suspect]
     Active Substance: ARIPIPRAZOLE
  341. ARIPIPRAZOLE [Suspect]
     Active Substance: ARIPIPRAZOLE
  342. CHLORPROMAZINE [Suspect]
     Active Substance: CHLORPROMAZINE
     Indication: Schizophrenia
     Route: 048
  343. CHLORPROMAZINE [Suspect]
     Active Substance: CHLORPROMAZINE
     Indication: Schizophrenia
  344. CHLORPROMAZINE [Suspect]
     Active Substance: CHLORPROMAZINE
     Indication: Breast cancer metastatic
     Route: 048
  345. CHLORPROMAZINE [Suspect]
     Active Substance: CHLORPROMAZINE
     Route: 048
  346. CHLORPROMAZINE [Suspect]
     Active Substance: CHLORPROMAZINE
     Route: 048
  347. CHLORPROMAZINE [Suspect]
     Active Substance: CHLORPROMAZINE
     Route: 048
  348. CHLORPROMAZINE [Suspect]
     Active Substance: CHLORPROMAZINE
     Route: 048
  349. CHLORPROMAZINE [Suspect]
     Active Substance: CHLORPROMAZINE
     Route: 048
  350. CHLORPROMAZINE [Suspect]
     Active Substance: CHLORPROMAZINE
  351. CHLORPROMAZINE [Suspect]
     Active Substance: CHLORPROMAZINE
  352. CHLORPROMAZINE [Suspect]
     Active Substance: CHLORPROMAZINE
  353. CHLORPROMAZINE [Suspect]
     Active Substance: CHLORPROMAZINE
     Route: 048
  354. CHLORPROMAZINE [Suspect]
     Active Substance: CHLORPROMAZINE
     Route: 048
  355. CHLORPROMAZINE [Suspect]
     Active Substance: CHLORPROMAZINE
     Route: 048
  356. CHLORPROMAZINE [Suspect]
     Active Substance: CHLORPROMAZINE
     Route: 048
  357. CHLORPROMAZINE [Suspect]
     Active Substance: CHLORPROMAZINE
     Route: 048
  358. CHLORPROMAZINE [Suspect]
     Active Substance: CHLORPROMAZINE
     Route: 048
  359. CHLORPROMAZINE [Suspect]
     Active Substance: CHLORPROMAZINE
     Route: 048
  360. CHLORPROMAZINE [Suspect]
     Active Substance: CHLORPROMAZINE
     Route: 048
  361. CHLORPROMAZINE [Suspect]
     Active Substance: CHLORPROMAZINE
     Route: 048
  362. CHLORPROMAZINE [Suspect]
     Active Substance: CHLORPROMAZINE
     Route: 048
  363. CHLORPROMAZINE [Suspect]
     Active Substance: CHLORPROMAZINE
     Route: 065
  364. CHLORPROMAZINE [Suspect]
     Active Substance: CHLORPROMAZINE
     Route: 065
  365. CHLORPROMAZINE [Suspect]
     Active Substance: CHLORPROMAZINE
     Route: 065
  366. CHLORPROMAZINE [Suspect]
     Active Substance: CHLORPROMAZINE
     Route: 065
  367. CHLORPROMAZINE [Suspect]
     Active Substance: CHLORPROMAZINE
     Route: 065
  368. CHLORPROMAZINE [Suspect]
     Active Substance: CHLORPROMAZINE
     Route: 065
  369. CHLORPROMAZINE [Suspect]
     Active Substance: CHLORPROMAZINE
     Route: 065
  370. CHLORPROMAZINE [Suspect]
     Active Substance: CHLORPROMAZINE
     Route: 065
  371. CHLORPROMAZINE [Suspect]
     Active Substance: CHLORPROMAZINE
     Route: 065
  372. CHLORPROMAZINE [Suspect]
     Active Substance: CHLORPROMAZINE
     Route: 065
  373. CHLORPROMAZINE [Suspect]
     Active Substance: CHLORPROMAZINE
     Route: 065
  374. CHLORPROMAZINE [Suspect]
     Active Substance: CHLORPROMAZINE
  375. CHLORPROMAZINE [Suspect]
     Active Substance: CHLORPROMAZINE
  376. CHLORPROMAZINE [Suspect]
     Active Substance: CHLORPROMAZINE
  377. CHLORPROMAZINE [Suspect]
     Active Substance: CHLORPROMAZINE
  378. CHLORPROMAZINE [Suspect]
     Active Substance: CHLORPROMAZINE
  379. CHLORPROMAZINE [Suspect]
     Active Substance: CHLORPROMAZINE
  380. CHLORPROMAZINE [Suspect]
     Active Substance: CHLORPROMAZINE
  381. CHLORPROMAZINE [Suspect]
     Active Substance: CHLORPROMAZINE
  382. CHLORPROMAZINE [Suspect]
     Active Substance: CHLORPROMAZINE
  383. CHLORPROMAZINE [Suspect]
     Active Substance: CHLORPROMAZINE
  384. CHLORPROMAZINE [Suspect]
     Active Substance: CHLORPROMAZINE
  385. CHLORPROMAZINE [Suspect]
     Active Substance: CHLORPROMAZINE
     Route: 048
  386. CHLORPROMAZINE [Suspect]
     Active Substance: CHLORPROMAZINE
     Route: 048
  387. CHLORPROMAZINE [Suspect]
     Active Substance: CHLORPROMAZINE
     Route: 048
  388. CHLORPROMAZINE [Suspect]
     Active Substance: CHLORPROMAZINE
     Route: 048
  389. CHLORPROMAZINE [Suspect]
     Active Substance: CHLORPROMAZINE
     Route: 048
  390. CHLORPROMAZINE [Suspect]
     Active Substance: CHLORPROMAZINE
     Route: 048
  391. CHLORPROMAZINE [Suspect]
     Active Substance: CHLORPROMAZINE
  392. CHLORPROMAZINE [Suspect]
     Active Substance: CHLORPROMAZINE
     Indication: Schizophrenia
  393. CHLORPROMAZINE [Suspect]
     Active Substance: CHLORPROMAZINE
     Indication: Schizophrenia
  394. CHLORPROMAZINE [Suspect]
     Active Substance: CHLORPROMAZINE
     Indication: Breast cancer metastatic
  395. CHLORPROMAZINE [Suspect]
     Active Substance: CHLORPROMAZINE
  396. CHLORPROMAZINE [Suspect]
     Active Substance: CHLORPROMAZINE
  397. CHLORPROMAZINE [Suspect]
     Active Substance: CHLORPROMAZINE
  398. CHLORPROMAZINE [Suspect]
     Active Substance: CHLORPROMAZINE
  399. CHLORPROMAZINE [Suspect]
     Active Substance: CHLORPROMAZINE
  400. CHLORPROMAZINE [Suspect]
     Active Substance: CHLORPROMAZINE
  401. CHLORPROMAZINE [Suspect]
     Active Substance: CHLORPROMAZINE
  402. CHLORPROMAZINE [Suspect]
     Active Substance: CHLORPROMAZINE
  403. CHLORPROMAZINE [Suspect]
     Active Substance: CHLORPROMAZINE
  404. CHLORPROMAZINE [Suspect]
     Active Substance: CHLORPROMAZINE
  405. CHLORPROMAZINE [Suspect]
     Active Substance: CHLORPROMAZINE
  406. CHLORPROMAZINE [Suspect]
     Active Substance: CHLORPROMAZINE
  407. CHLORPROMAZINE [Suspect]
     Active Substance: CHLORPROMAZINE
  408. CHLORPROMAZINE [Suspect]
     Active Substance: CHLORPROMAZINE
  409. CHLORPROMAZINE [Suspect]
     Active Substance: CHLORPROMAZINE
  410. CHLORPROMAZINE [Suspect]
     Active Substance: CHLORPROMAZINE
  411. CHLORPROMAZINE [Suspect]
     Active Substance: CHLORPROMAZINE
  412. CHLORPROMAZINE [Suspect]
     Active Substance: CHLORPROMAZINE
  413. CHLORPROMAZINE [Suspect]
     Active Substance: CHLORPROMAZINE
  414. CHLORPROMAZINE [Suspect]
     Active Substance: CHLORPROMAZINE
  415. CHLORPROMAZINE [Suspect]
     Active Substance: CHLORPROMAZINE
  416. CHLORPROMAZINE [Suspect]
     Active Substance: CHLORPROMAZINE
  417. CHLORPROMAZINE [Suspect]
     Active Substance: CHLORPROMAZINE
  418. CHLORPROMAZINE [Suspect]
     Active Substance: CHLORPROMAZINE
  419. CHLORPROMAZINE [Suspect]
     Active Substance: CHLORPROMAZINE
  420. CHLORPROMAZINE [Suspect]
     Active Substance: CHLORPROMAZINE
  421. CHLORPROMAZINE [Suspect]
     Active Substance: CHLORPROMAZINE
  422. CHLORPROMAZINE [Suspect]
     Active Substance: CHLORPROMAZINE
  423. CHLORPROMAZINE [Suspect]
     Active Substance: CHLORPROMAZINE
  424. CHLORPROMAZINE [Suspect]
     Active Substance: CHLORPROMAZINE
  425. CHLORPROMAZINE [Suspect]
     Active Substance: CHLORPROMAZINE
  426. CHLORPROMAZINE [Suspect]
     Active Substance: CHLORPROMAZINE
  427. CHLORPROMAZINE [Suspect]
     Active Substance: CHLORPROMAZINE
     Indication: Schizophrenia
     Route: 048
  428. CHLORPROMAZINE [Suspect]
     Active Substance: CHLORPROMAZINE
     Route: 048
  429. CHLORPROMAZINE [Suspect]
     Active Substance: CHLORPROMAZINE
     Route: 048
  430. CHLORPROMAZINE [Suspect]
     Active Substance: CHLORPROMAZINE
     Route: 048
  431. CHLORPROMAZINE [Suspect]
     Active Substance: CHLORPROMAZINE
     Route: 048
  432. CHLORPROMAZINE [Suspect]
     Active Substance: CHLORPROMAZINE
     Route: 048
  433. CHLORPROMAZINE [Suspect]
     Active Substance: CHLORPROMAZINE
     Route: 048
  434. CHLORPROMAZINE [Suspect]
     Active Substance: CHLORPROMAZINE
     Route: 048
  435. CHLORPROMAZINE [Suspect]
     Active Substance: CHLORPROMAZINE
     Route: 048
  436. CHLORPROMAZINE [Suspect]
     Active Substance: CHLORPROMAZINE
     Route: 048
  437. CHLORPROMAZINE [Suspect]
     Active Substance: CHLORPROMAZINE
     Route: 048
  438. CHLORPROMAZINE [Suspect]
     Active Substance: CHLORPROMAZINE
     Route: 048
  439. CHLORPROMAZINE [Suspect]
     Active Substance: CHLORPROMAZINE
     Route: 048
  440. CHLORPROMAZINE [Suspect]
     Active Substance: CHLORPROMAZINE
     Route: 065
  441. CHLORPROMAZINE [Suspect]
     Active Substance: CHLORPROMAZINE
     Route: 065
  442. CHLORPROMAZINE [Suspect]
     Active Substance: CHLORPROMAZINE
     Route: 065
  443. CHLORPROMAZINE [Suspect]
     Active Substance: CHLORPROMAZINE
     Route: 065
  444. CHLORPROMAZINE [Suspect]
     Active Substance: CHLORPROMAZINE
     Route: 065
  445. CHLORPROMAZINE [Suspect]
     Active Substance: CHLORPROMAZINE
     Route: 065
  446. CHLORPROMAZINE [Suspect]
     Active Substance: CHLORPROMAZINE
     Route: 065
  447. CHLORPROMAZINE [Suspect]
     Active Substance: CHLORPROMAZINE
     Route: 065
  448. CHLORPROMAZINE [Suspect]
     Active Substance: CHLORPROMAZINE
     Route: 065
  449. CHLORPROMAZINE [Suspect]
     Active Substance: CHLORPROMAZINE
     Route: 065
  450. CHLORPROMAZINE [Suspect]
     Active Substance: CHLORPROMAZINE
     Route: 065
  451. CHLORPROMAZINE [Suspect]
     Active Substance: CHLORPROMAZINE
     Route: 065
  452. CHLORPROMAZINE [Suspect]
     Active Substance: CHLORPROMAZINE
     Route: 065
  453. CHLORPROMAZINE [Suspect]
     Active Substance: CHLORPROMAZINE
     Route: 065
  454. CHLORPROMAZINE [Suspect]
     Active Substance: CHLORPROMAZINE
     Route: 048
  455. ZUCLOPENTHIXOL HYDROCHLORIDE [Suspect]
     Active Substance: ZUCLOPENTHIXOL HYDROCHLORIDE
     Indication: Schizophrenia
     Route: 065
  456. ZUCLOPENTHIXOL HYDROCHLORIDE [Suspect]
     Active Substance: ZUCLOPENTHIXOL HYDROCHLORIDE
     Indication: Off label use
     Dosage: 400 MG, 1/WEEK, (ADDITIONAL INFORMATION ON DRUG (FREE TEXT): CLOZARIL ADDITIONAL INFO: OFF LABEL USE
     Route: 030
  457. ZUCLOPENTHIXOL HYDROCHLORIDE [Suspect]
     Active Substance: ZUCLOPENTHIXOL HYDROCHLORIDE
     Dosage: 400 MILLIGRAM, EVERY WEEK
     Route: 065
  458. ZUCLOPENTHIXOL HYDROCHLORIDE [Suspect]
     Active Substance: ZUCLOPENTHIXOL HYDROCHLORIDE
     Route: 065
  459. ZUCLOPENTHIXOL HYDROCHLORIDE [Suspect]
     Active Substance: ZUCLOPENTHIXOL HYDROCHLORIDE
     Route: 065
  460. ZUCLOPENTHIXOL HYDROCHLORIDE [Suspect]
     Active Substance: ZUCLOPENTHIXOL HYDROCHLORIDE
     Dosage: 800MG, QW2
     Route: 065
     Dates: start: 20030204, end: 20040217
  461. ZUCLOPENTHIXOL HYDROCHLORIDE [Suspect]
     Active Substance: ZUCLOPENTHIXOL HYDROCHLORIDE
     Dosage: 800 MILLIGRAM, QWK, (ADDITIONAL INFORMATION ON DRUG (FREE TEXT): CLOZARIL ADDITIONAL INFO: OFF LABEL
     Route: 030
     Dates: start: 20030204, end: 20040217
  462. ZUCLOPENTHIXOL HYDROCHLORIDE [Suspect]
     Active Substance: ZUCLOPENTHIXOL HYDROCHLORIDE
     Dosage: 400 MG, CYCLIC (400 MG, BIWEEKLY)
     Route: 065
     Dates: start: 20030204, end: 20040217
  463. ZUCLOPENTHIXOL HYDROCHLORIDE [Suspect]
     Active Substance: ZUCLOPENTHIXOL HYDROCHLORIDE
     Route: 065
     Dates: start: 20030204, end: 20040217
  464. ZUCLOPENTHIXOL HYDROCHLORIDE [Suspect]
     Active Substance: ZUCLOPENTHIXOL HYDROCHLORIDE
     Dosage: 400 MILLIGRAM, QW
     Route: 065
     Dates: start: 20030217, end: 20040601
  465. ZUCLOPENTHIXOL HYDROCHLORIDE [Suspect]
     Active Substance: ZUCLOPENTHIXOL HYDROCHLORIDE
     Dosage: 400 MG, QW, (ADDITIONAL INFORMATION ON DRUG (FREE TEXT): CLOZARIL ADDITIONAL INFO: OFF LABEL USE; CU
     Route: 065
     Dates: start: 20040217, end: 20040601
  466. ZUCLOPENTHIXOL HYDROCHLORIDE [Suspect]
     Active Substance: ZUCLOPENTHIXOL HYDROCHLORIDE
     Route: 065
     Dates: start: 20040217, end: 20040601
  467. ZUCLOPENTHIXOL HYDROCHLORIDE [Suspect]
     Active Substance: ZUCLOPENTHIXOL HYDROCHLORIDE
     Dosage: 400 MG, WEEKLY (1/W)/40 MILLIGRAM (ADDITIONAL INFORMATION ON DRUG (FREE TEXT): CLOZARIL, ADDITIONAL
     Route: 030
     Dates: start: 20040217, end: 20040601
  468. ZUCLOPENTHIXOL HYDROCHLORIDE [Suspect]
     Active Substance: ZUCLOPENTHIXOL HYDROCHLORIDE
     Dosage: 400 MG, QW2
     Route: 065
     Dates: start: 20040601, end: 20041018
  469. ZUCLOPENTHIXOL HYDROCHLORIDE [Suspect]
     Active Substance: ZUCLOPENTHIXOL HYDROCHLORIDE
     Dosage: 400 MILLIGRAM, BIW
     Route: 065
     Dates: start: 20040601, end: 20041018
  470. ZUCLOPENTHIXOL HYDROCHLORIDE [Suspect]
     Active Substance: ZUCLOPENTHIXOL HYDROCHLORIDE
     Route: 065
     Dates: start: 20040601
  471. ZUCLOPENTHIXOL HYDROCHLORIDE [Suspect]
     Active Substance: ZUCLOPENTHIXOL HYDROCHLORIDE
     Dosage: 400 MILLIGRAM, QWK/ (ADDITIONAL INFORMATION ON DRUG (FREE TEXT): CLOZARIL ADDITIONAL INFO: OFF LABEL
     Route: 030
     Dates: start: 20040601, end: 20041018
  472. ZUCLOPENTHIXOL HYDROCHLORIDE [Suspect]
     Active Substance: ZUCLOPENTHIXOL HYDROCHLORIDE
     Dosage: 300 MG, QW
     Route: 030
     Dates: start: 20040601, end: 20041018
  473. ZUCLOPENTHIXOL HYDROCHLORIDE [Suspect]
     Active Substance: ZUCLOPENTHIXOL HYDROCHLORIDE
     Dosage: 400 MG, QW2
     Route: 065
     Dates: start: 20091018
  474. ZUCLOPENTHIXOL HYDROCHLORIDE [Suspect]
     Active Substance: ZUCLOPENTHIXOL HYDROCHLORIDE
     Dosage: 800MG, QW2
     Route: 065
     Dates: start: 20041018, end: 20041018
  475. ZUCLOPENTHIXOL HYDROCHLORIDE [Suspect]
     Active Substance: ZUCLOPENTHIXOL HYDROCHLORIDE
     Route: 030
     Dates: start: 20041018, end: 20041018
  476. ZUCLOPENTHIXOL HYDROCHLORIDE [Suspect]
     Active Substance: ZUCLOPENTHIXOL HYDROCHLORIDE
     Route: 065
     Dates: start: 20041018, end: 20041018
  477. ZUCLOPENTHIXOL HYDROCHLORIDE [Suspect]
     Active Substance: ZUCLOPENTHIXOL HYDROCHLORIDE
     Dosage: 400 MG BIW
     Route: 030
     Dates: start: 20041018, end: 20041018
  478. ZUCLOPENTHIXOL HYDROCHLORIDE [Suspect]
     Active Substance: ZUCLOPENTHIXOL HYDROCHLORIDE
     Route: 030
     Dates: start: 20041018
  479. ZUCLOPENTHIXOL HYDROCHLORIDE [Suspect]
     Active Substance: ZUCLOPENTHIXOL HYDROCHLORIDE
     Dosage: 400 MILLIGRAM, BIWEEKLY/04-FEB-2003; 17-FEB-2004 00:00
     Route: 065
  480. ZUCLOPENTHIXOL HYDROCHLORIDE [Suspect]
     Active Substance: ZUCLOPENTHIXOL HYDROCHLORIDE
     Dosage: 800 MILLIGRAM, QW (400 MG, 2/W)/04-FEB-2003; 17-FEB-2004 00:00
     Route: 065
  481. ZUCLOPENTHIXOL HYDROCHLORIDE [Suspect]
     Active Substance: ZUCLOPENTHIXOL HYDROCHLORIDE
     Route: 030
     Dates: start: 20030204, end: 20040217
  482. ZUCLOPENTHIXOL HYDROCHLORIDE [Suspect]
     Active Substance: ZUCLOPENTHIXOL HYDROCHLORIDE
     Dosage: 400 MG, QW2, (CYCLIC, 04 FEB 2004); 17-FEB-2004 00:00
     Route: 065
  483. ZUCLOPENTHIXOL HYDROCHLORIDE [Suspect]
     Active Substance: ZUCLOPENTHIXOL HYDROCHLORIDE
     Dosage: 300 MG, WEEKLY/18-OCT-2009; 17-FEB-2004 00:00, (ADDITIONAL INFORMATION ON DRUG (FREE TEXT): CLOZARIL
     Route: 030
     Dates: start: 20091018
  484. ZUCLOPENTHIXOL HYDROCHLORIDE [Suspect]
     Active Substance: ZUCLOPENTHIXOL HYDROCHLORIDE
     Dosage: 800 MG, QW, (04 FEB 2003); 17-FEB-2004 00:00
     Route: 065
  485. ZUCLOPENTHIXOL HYDROCHLORIDE [Suspect]
     Active Substance: ZUCLOPENTHIXOL HYDROCHLORIDE
     Dosage: 400 MILLIGRAM, WEEKLY/17-FEB-2004; 01-JUN-2004 00:00
  486. ZUCLOPENTHIXOL HYDROCHLORIDE [Suspect]
     Active Substance: ZUCLOPENTHIXOL HYDROCHLORIDE
     Dosage: 400 MG, CYCLIC (400 MG, BIWEEKLY)/01-JUN-2004; 18-OCT-2004 00:00/ 400 MILLIGRAM, Q2WK (ADDITIONAL IN
     Route: 030
     Dates: start: 20040601, end: 20041018
  487. ZUCLOPENTHIXOL HYDROCHLORIDE [Suspect]
     Active Substance: ZUCLOPENTHIXOL HYDROCHLORIDE
     Dosage: 400 MILLIGRAM, BIWEEKLY/18-OCT-2009; 18-OCT-2004 00:00
     Route: 065
  488. ZUCLOPENTHIXOL HYDROCHLORIDE [Suspect]
     Active Substance: ZUCLOPENTHIXOL HYDROCHLORIDE
     Dosage: 800 MILLIGRAM, QW (400 MG, 2/W)/01-JUN-2004; 18-OCT-2004 00:00
     Route: 065
  489. ZUCLOPENTHIXOL HYDROCHLORIDE [Suspect]
     Active Substance: ZUCLOPENTHIXOL HYDROCHLORIDE
     Dosage: 400 MG, QW2, (CYCLIC, 01 JUN 2004); 18-OCT-2004 00:00
     Route: 065
  490. ZUCLOPENTHIXOL HYDROCHLORIDE [Suspect]
     Active Substance: ZUCLOPENTHIXOL HYDROCHLORIDE
     Dosage: 400 MILLIGRAM, BIWEEKLY/18-OCT-2009
     Route: 065
  491. ZUCLOPENTHIXOL HYDROCHLORIDE [Suspect]
     Active Substance: ZUCLOPENTHIXOL HYDROCHLORIDE
     Dosage: 300 MG, QW/300 MG, WEEKLY (1/W)
     Route: 030
     Dates: start: 20091009
  492. ZUCLOPENTHIXOL HYDROCHLORIDE [Suspect]
     Active Substance: ZUCLOPENTHIXOL HYDROCHLORIDE
     Route: 030
     Dates: start: 20091009
  493. ZUCLOPENTHIXOL HYDROCHLORIDE [Suspect]
     Active Substance: ZUCLOPENTHIXOL HYDROCHLORIDE
     Route: 030
     Dates: start: 20091009
  494. ZUCLOPENTHIXOL HYDROCHLORIDE [Suspect]
     Active Substance: ZUCLOPENTHIXOL HYDROCHLORIDE
     Dosage: 300 MG, WEEKLY (1/W), 300 MILLIGRAM, QWK, (ADDITIONAL INFORMATION ON DRUG (FREE TEXT): CLOZARIL ADDI
     Route: 030
     Dates: start: 20091018
  495. ZUCLOPENTHIXOL HYDROCHLORIDE [Suspect]
     Active Substance: ZUCLOPENTHIXOL HYDROCHLORIDE
     Dosage: 400 MILLIGRAM, BIW, (ADDITIONAL INFORMATION ON DRUG (FREE TEXT): CLOZARIL ADDITIONAL INFO: OFF LABEL
     Route: 030
     Dates: start: 20091018
  496. ZUCLOPENTHIXOL HYDROCHLORIDE [Suspect]
     Active Substance: ZUCLOPENTHIXOL HYDROCHLORIDE
     Route: 030
     Dates: start: 20091018
  497. ZUCLOPENTHIXOL HYDROCHLORIDE [Suspect]
     Active Substance: ZUCLOPENTHIXOL HYDROCHLORIDE
     Route: 065
     Dates: start: 20091018
  498. ZUCLOPENTHIXOL HYDROCHLORIDE [Suspect]
     Active Substance: ZUCLOPENTHIXOL HYDROCHLORIDE
     Dosage: 300 MG, QW (300 MILLIGRAM I.M WEEKLY), (ADDITIONAL INFORMATION ON DRUG (FREE TEXT): CLOZARIL ADDITIO
     Route: 030
     Dates: start: 20091009
  499. ZUCLOPENTHIXOL HYDROCHLORIDE [Suspect]
     Active Substance: ZUCLOPENTHIXOL HYDROCHLORIDE
     Route: 030
  500. ZUCLOPENTHIXOL HYDROCHLORIDE [Suspect]
     Active Substance: ZUCLOPENTHIXOL HYDROCHLORIDE
     Dosage: 800 MILLIGRAM, QWK, (ADDITIONAL INFORMATION ON DRUG (FREE TEXT): CLOZARIL ADDITIONAL INFO: OFF LABEL
     Route: 030
     Dates: start: 20040601, end: 20041018
  501. ZUCLOPENTHIXOL HYDROCHLORIDE [Suspect]
     Active Substance: ZUCLOPENTHIXOL HYDROCHLORIDE
     Route: 030
     Dates: start: 20040901
  502. ZUCLOPENTHIXOL HYDROCHLORIDE [Suspect]
     Active Substance: ZUCLOPENTHIXOL HYDROCHLORIDE
     Dosage: 400 MILLIGRAM, QWK, (ADDITIONAL INFORMATION ON DRUG (FREE TEXT): CLOZARIL ADDITIONAL INFO: OFF LABEL
     Route: 030
     Dates: start: 20040217, end: 20040601
  503. ZUCLOPENTHIXOL HYDROCHLORIDE [Suspect]
     Active Substance: ZUCLOPENTHIXOL HYDROCHLORIDE
     Route: 030
     Dates: start: 20041018, end: 20041018
  504. ZUCLOPENTHIXOL HYDROCHLORIDE [Suspect]
     Active Substance: ZUCLOPENTHIXOL HYDROCHLORIDE
     Dosage: 300 MILLIGRAM, QWK, (ADDITIONAL INFORMATION ON DRUG (FREE TEXT): CLOZARIL ADDITIONAL INFO: OFF LABEL
     Route: 030
     Dates: start: 20091018
  505. ZUCLOPENTHIXOL HYDROCHLORIDE [Suspect]
     Active Substance: ZUCLOPENTHIXOL HYDROCHLORIDE
     Indication: Product used for unknown indication
     Route: 030
  506. ZUCLOPENTHIXOL HYDROCHLORIDE [Suspect]
     Active Substance: ZUCLOPENTHIXOL HYDROCHLORIDE
     Dosage: 400 MILLIGRAM, BIWEEKLY/18-OCT-2009
     Route: 030
  507. ZUCLOPENTHIXOL HYDROCHLORIDE [Suspect]
     Active Substance: ZUCLOPENTHIXOL HYDROCHLORIDE
     Route: 065
  508. ZUCLOPENTHIXOL HYDROCHLORIDE [Suspect]
     Active Substance: ZUCLOPENTHIXOL HYDROCHLORIDE
     Route: 065
  509. ZUCLOPENTHIXOL HYDROCHLORIDE [Suspect]
     Active Substance: ZUCLOPENTHIXOL HYDROCHLORIDE
     Dosage: 300 MILLIGRAM, QWK (ADDITIONAL INFORMATION ON DRUG (FREE TEXT): CLOZARIL, ADDITIONAL INFO: OFF LABEL
     Route: 030
     Dates: start: 20091009, end: 20091018
  510. ZUCLOPENTHIXOL HYDROCHLORIDE [Suspect]
     Active Substance: ZUCLOPENTHIXOL HYDROCHLORIDE
     Dosage: 400 MILLIGRAM, EVERY WEEK
     Route: 030
  511. ZUCLOPENTHIXOL HYDROCHLORIDE [Suspect]
     Active Substance: ZUCLOPENTHIXOL HYDROCHLORIDE
     Dosage: 400 MG, CYCLIC (400 MG, BIWEEKLY)
     Dates: start: 20030204, end: 20040217
  512. ZUCLOPENTHIXOL HYDROCHLORIDE [Suspect]
     Active Substance: ZUCLOPENTHIXOL HYDROCHLORIDE
     Dosage: 400 MG, CYCLIC (400 MG, BIWEEKLY)
     Dates: start: 20030204, end: 20040217
  513. ZUCLOPENTHIXOL HYDROCHLORIDE [Suspect]
     Active Substance: ZUCLOPENTHIXOL HYDROCHLORIDE
     Route: 030
     Dates: start: 20030204, end: 20040217
  514. ZUCLOPENTHIXOL HYDROCHLORIDE [Suspect]
     Active Substance: ZUCLOPENTHIXOL HYDROCHLORIDE
     Dosage: 400 MILLIGRAM, QWK
     Route: 030
     Dates: start: 20030204, end: 20040217
  515. ZUCLOPENTHIXOL HYDROCHLORIDE [Suspect]
     Active Substance: ZUCLOPENTHIXOL HYDROCHLORIDE
     Dosage: 800 MILLIGRAM, QWK
     Route: 030
     Dates: start: 20030204, end: 20040217
  516. ZUCLOPENTHIXOL HYDROCHLORIDE [Suspect]
     Active Substance: ZUCLOPENTHIXOL HYDROCHLORIDE
     Route: 030
     Dates: start: 20030204, end: 20040217
  517. ZUCLOPENTHIXOL HYDROCHLORIDE [Suspect]
     Active Substance: ZUCLOPENTHIXOL HYDROCHLORIDE
     Route: 030
     Dates: start: 20030204, end: 20040217
  518. ZUCLOPENTHIXOL HYDROCHLORIDE [Suspect]
     Active Substance: ZUCLOPENTHIXOL HYDROCHLORIDE
     Route: 030
     Dates: start: 20030204, end: 20040217
  519. ZUCLOPENTHIXOL HYDROCHLORIDE [Suspect]
     Active Substance: ZUCLOPENTHIXOL HYDROCHLORIDE
     Route: 030
     Dates: start: 20040217
  520. ZUCLOPENTHIXOL HYDROCHLORIDE [Suspect]
     Active Substance: ZUCLOPENTHIXOL HYDROCHLORIDE
     Dosage: 800 MILLIGRAM, QW (400 MG, 2/W)/04-FEB-2003
     Dates: start: 20040217
  521. ZUCLOPENTHIXOL HYDROCHLORIDE [Suspect]
     Active Substance: ZUCLOPENTHIXOL HYDROCHLORIDE
     Dosage: 400 MILLIGRAM, EVERY WEEK
     Route: 030
     Dates: start: 20040217, end: 20040601
  522. ZUCLOPENTHIXOL HYDROCHLORIDE [Suspect]
     Active Substance: ZUCLOPENTHIXOL HYDROCHLORIDE
     Dosage: 400 MILLIGRAM, BIWEEKLY (CYCLE)/04-FEB-2003
     Dates: start: 20040217
  523. ZUCLOPENTHIXOL HYDROCHLORIDE [Suspect]
     Active Substance: ZUCLOPENTHIXOL HYDROCHLORIDE
     Dosage: 400 MG, WEEKLY 1/WEEK
     Route: 030
     Dates: start: 20040217, end: 20040601
  524. ZUCLOPENTHIXOL HYDROCHLORIDE [Suspect]
     Active Substance: ZUCLOPENTHIXOL HYDROCHLORIDE
     Route: 030
     Dates: start: 20040217
  525. ZUCLOPENTHIXOL HYDROCHLORIDE [Suspect]
     Active Substance: ZUCLOPENTHIXOL HYDROCHLORIDE
     Dosage: 400 MG, WEEKLY (1/W)
     Route: 030
     Dates: start: 20040217, end: 20040601
  526. ZUCLOPENTHIXOL HYDROCHLORIDE [Suspect]
     Active Substance: ZUCLOPENTHIXOL HYDROCHLORIDE
     Dosage: 800 MILLIGRAM, QWK (ADDITIONAL INFORMATION ON DRUG (FREE TEXT): CLOZARIL, ADDITIONAL INFO: OFF LABEL
     Route: 030
     Dates: start: 20040217
  527. ZUCLOPENTHIXOL HYDROCHLORIDE [Suspect]
     Active Substance: ZUCLOPENTHIXOL HYDROCHLORIDE
     Dosage: 400 MG, WEEKLY (1/W)
     Route: 030
     Dates: start: 20040217, end: 20040601
  528. ZUCLOPENTHIXOL HYDROCHLORIDE [Suspect]
     Active Substance: ZUCLOPENTHIXOL HYDROCHLORIDE
     Dosage: 400 MILLIGRAM, WEEKLY/17-FEB-2004
     Dates: start: 20040601
  529. ZUCLOPENTHIXOL HYDROCHLORIDE [Suspect]
     Active Substance: ZUCLOPENTHIXOL HYDROCHLORIDE
     Route: 030
     Dates: start: 20040601, end: 20041018
  530. ZUCLOPENTHIXOL HYDROCHLORIDE [Suspect]
     Active Substance: ZUCLOPENTHIXOL HYDROCHLORIDE
     Dosage: 800 MILLIGRAM, QWK
     Route: 030
     Dates: start: 20040601, end: 20041018
  531. ZUCLOPENTHIXOL HYDROCHLORIDE [Suspect]
     Active Substance: ZUCLOPENTHIXOL HYDROCHLORIDE
     Dosage: 400 MG, CYCLIC (400 MG, BIWEEKLY)
     Dates: start: 20040601, end: 20041018
  532. ZUCLOPENTHIXOL HYDROCHLORIDE [Suspect]
     Active Substance: ZUCLOPENTHIXOL HYDROCHLORIDE
     Route: 030
     Dates: start: 20040601, end: 20041018
  533. ZUCLOPENTHIXOL HYDROCHLORIDE [Suspect]
     Active Substance: ZUCLOPENTHIXOL HYDROCHLORIDE
     Route: 030
     Dates: start: 20041018, end: 20041018
  534. ZUCLOPENTHIXOL HYDROCHLORIDE [Suspect]
     Active Substance: ZUCLOPENTHIXOL HYDROCHLORIDE
     Dates: start: 20041018
  535. ZUCLOPENTHIXOL HYDROCHLORIDE [Suspect]
     Active Substance: ZUCLOPENTHIXOL HYDROCHLORIDE
     Dates: start: 20041018
  536. ZUCLOPENTHIXOL HYDROCHLORIDE [Suspect]
     Active Substance: ZUCLOPENTHIXOL HYDROCHLORIDE
     Dosage: 800 MILLIGRAM, QW (400 MG, 2/W)/01-JUN-2004
     Dates: start: 20041018
  537. ZUCLOPENTHIXOL HYDROCHLORIDE [Suspect]
     Active Substance: ZUCLOPENTHIXOL HYDROCHLORIDE
     Dosage: 400 MG, OTHER (BIWEEKLY)
     Dates: start: 20041018, end: 20041018
  538. ZUCLOPENTHIXOL HYDROCHLORIDE [Suspect]
     Active Substance: ZUCLOPENTHIXOL HYDROCHLORIDE
     Dosage: 400 MILLIGRAM, QWK (ADDITIONAL INFORMATION ON DRUG (FREE TEXT): CLOZARIL, ADDITIONAL INFO: OFF LABEL
     Route: 030
     Dates: start: 20041018, end: 20041018
  539. ZUCLOPENTHIXOL HYDROCHLORIDE [Suspect]
     Active Substance: ZUCLOPENTHIXOL HYDROCHLORIDE
     Dosage: 800 MG, 1/WEEK
     Route: 030
     Dates: start: 20041018, end: 20041018
  540. ZUCLOPENTHIXOL HYDROCHLORIDE [Suspect]
     Active Substance: ZUCLOPENTHIXOL HYDROCHLORIDE
     Route: 030
     Dates: start: 20041018, end: 20041018
  541. ZUCLOPENTHIXOL HYDROCHLORIDE [Suspect]
     Active Substance: ZUCLOPENTHIXOL HYDROCHLORIDE
     Route: 030
     Dates: start: 20041018, end: 20041018
  542. ZUCLOPENTHIXOL HYDROCHLORIDE [Suspect]
     Active Substance: ZUCLOPENTHIXOL HYDROCHLORIDE
     Route: 030
     Dates: start: 20091018
  543. ZUCLOPENTHIXOL HYDROCHLORIDE [Suspect]
     Active Substance: ZUCLOPENTHIXOL HYDROCHLORIDE
     Route: 030
     Dates: start: 20091018
  544. ZUCLOPENTHIXOL HYDROCHLORIDE [Suspect]
     Active Substance: ZUCLOPENTHIXOL HYDROCHLORIDE
     Route: 030
     Dates: start: 20091009
  545. ZUCLOPENTHIXOL HYDROCHLORIDE [Suspect]
     Active Substance: ZUCLOPENTHIXOL HYDROCHLORIDE
     Dosage: 300 MG, WEEKLY (1/W)
     Route: 030
     Dates: start: 20091018
  546. ZUCLOPENTHIXOL HYDROCHLORIDE [Suspect]
     Active Substance: ZUCLOPENTHIXOL HYDROCHLORIDE
     Dosage: 300 MG, WEEKLY (1/W)
     Route: 030
     Dates: start: 20091018
  547. ZUCLOPENTHIXOL HYDROCHLORIDE [Suspect]
     Active Substance: ZUCLOPENTHIXOL HYDROCHLORIDE
     Dosage: 300 MG, WEEKLY (1/W), QW (300 MILLIGRAM I.M WEEKLY)/ 300 MILLIGRAM, QWK (ADDITIONAL INFORMATION ON D
     Route: 030
     Dates: start: 20091009
  548. ZUCLOPENTHIXOL HYDROCHLORIDE [Suspect]
     Active Substance: ZUCLOPENTHIXOL HYDROCHLORIDE
     Dates: start: 20091009
  549. ZUCLOPENTHIXOL HYDROCHLORIDE [Suspect]
     Active Substance: ZUCLOPENTHIXOL HYDROCHLORIDE
     Dosage: 300 MG, WEEKLY/18-OCT-2009
     Route: 030
     Dates: start: 20091009
  550. ZUCLOPENTHIXOL HYDROCHLORIDE [Suspect]
     Active Substance: ZUCLOPENTHIXOL HYDROCHLORIDE
     Route: 030
     Dates: start: 20091018
  551. ZUCLOPENTHIXOL HYDROCHLORIDE [Suspect]
     Active Substance: ZUCLOPENTHIXOL HYDROCHLORIDE
     Dosage: 800 MILLIGRAM, QWK
     Route: 030
  552. ZUCLOPENTHIXOL HYDROCHLORIDE [Suspect]
     Active Substance: ZUCLOPENTHIXOL HYDROCHLORIDE
     Route: 030
  553. ZUCLOPENTHIXOL HYDROCHLORIDE [Suspect]
     Active Substance: ZUCLOPENTHIXOL HYDROCHLORIDE
     Dosage: 400 MILLIGRAM/ 400 MG (2/W) (ADDITIONAL INFORMATION ON DRUG (FREE TEXT): CLOZARIL, ADDITIONAL INFO:
     Route: 030
     Dates: start: 20040217, end: 20040601
  554. ZUCLOPENTHIXOL HYDROCHLORIDE [Suspect]
     Active Substance: ZUCLOPENTHIXOL HYDROCHLORIDE
     Route: 030
     Dates: start: 20030204, end: 20041018
  555. ZUCLOPENTHIXOL HYDROCHLORIDE [Suspect]
     Active Substance: ZUCLOPENTHIXOL HYDROCHLORIDE
     Indication: Schizophrenia
     Dosage: 400 MG, 1/WEEK (DOSE TEXT: 400 MG, QW; CUMULATIVE DOSE TO FIRST REACTION: 265885.72 MG )
     Route: 065
     Dates: start: 20030204, end: 20040217
  556. ZUCLOPENTHIXOL HYDROCHLORIDE [Suspect]
     Active Substance: ZUCLOPENTHIXOL HYDROCHLORIDE
     Dosage: 300 MG, 1/WEEK (300 MG, QW CUMULATIVE DOSE TO FIRST REACTION: 94501.79 MG )
     Route: 030
     Dates: start: 20091018
  557. ZUCLOPENTHIXOL HYDROCHLORIDE [Suspect]
     Active Substance: ZUCLOPENTHIXOL HYDROCHLORIDE
     Route: 065
  558. ZUCLOPENTHIXOL HYDROCHLORIDE [Suspect]
     Active Substance: ZUCLOPENTHIXOL HYDROCHLORIDE
     Dosage: 400 MG, 1/WEEK (DOSE TEXT: 400 MG, QW)
     Route: 065
     Dates: end: 20040601
  559. ZUCLOPENTHIXOL HYDROCHLORIDE [Suspect]
     Active Substance: ZUCLOPENTHIXOL HYDROCHLORIDE
     Dosage: 400 MG, 1/WEEK (DOSE TEXT: 400 MG, QW; CUMULATIVE DOSE TO FIRST REACTION: 126002.38 MG)
     Route: 065
     Dates: start: 20091018
  560. ZUCLOPENTHIXOL HYDROCHLORIDE [Suspect]
     Active Substance: ZUCLOPENTHIXOL HYDROCHLORIDE
     Dosage: 400 MG (DOSE TEXT: 400 MG, BIW; CUMULATIVE DOSE TO FIRST REACTION: 63001.19 MG)
     Route: 030
     Dates: start: 20091018
  561. ZUCLOPENTHIXOL HYDROCHLORIDE [Suspect]
     Active Substance: ZUCLOPENTHIXOL HYDROCHLORIDE
     Route: 030
     Dates: start: 20091009
  562. ZUCLOPENTHIXOL HYDROCHLORIDE [Suspect]
     Active Substance: ZUCLOPENTHIXOL HYDROCHLORIDE
     Dosage: 400 MG 2/WEEK (DOSE TEXT: 400 MG, BIW)
     Route: 065
     Dates: end: 20041018
  563. ZUCLOPENTHIXOL HYDROCHLORIDE [Suspect]
     Active Substance: ZUCLOPENTHIXOL HYDROCHLORIDE
     Dosage: 400 MG, 1/WEEK (DOSE TEXT: 400 MG, QW; CUMULATIVE DOSE TO FIRST REACTION: 244285.72 MG )
     Route: 065
     Dates: start: 20040217, end: 20040601
  564. ZUCLOPENTHIXOL HYDROCHLORIDE [Suspect]
     Active Substance: ZUCLOPENTHIXOL HYDROCHLORIDE
     Dosage: 300 MG, 1/WEEK (DOSE TEXT: 300 MG, QW CUMULATIVE DOSE TO FIRST REACTION: 94887.5 MG)
     Route: 030
     Dates: start: 20091009
  565. ZUCLOPENTHIXOL HYDROCHLORIDE [Suspect]
     Active Substance: ZUCLOPENTHIXOL HYDROCHLORIDE
     Route: 065
  566. ZUCLOPENTHIXOL HYDROCHLORIDE [Suspect]
     Active Substance: ZUCLOPENTHIXOL HYDROCHLORIDE
     Dosage: 400 MG, 1/WEEK (DOSE TEXT: 400 MG, QW; CUMULATIVE DOSE TO FIRST REACTION: 230345.23 MG )
     Route: 065
     Dates: start: 20041018, end: 20041018
  567. ZUCLOPENTHIXOL HYDROCHLORIDE [Suspect]
     Active Substance: ZUCLOPENTHIXOL HYDROCHLORIDE
     Route: 065
  568. ZUCLOPENTHIXOL HYDROCHLORIDE [Suspect]
     Active Substance: ZUCLOPENTHIXOL HYDROCHLORIDE
     Dosage: 400 MG, 2/WEEK
     Dates: start: 20040601, end: 20041018
  569. ZUCLOPENTHIXOL HYDROCHLORIDE [Suspect]
     Active Substance: ZUCLOPENTHIXOL HYDROCHLORIDE
     Route: 030
     Dates: start: 20091018
  570. ZUCLOPENTHIXOL HYDROCHLORIDE [Suspect]
     Active Substance: ZUCLOPENTHIXOL HYDROCHLORIDE
     Dosage: 400 MG, WEEKLY (1/W), (CUMULATIVE DOSE TO FIRST REACTION: 310400.0 MG, ADDITIONAL INFORMATION ON DRU
     Route: 065
     Dates: start: 20040217, end: 20040601
  571. ZUCLOPENTHIXOL HYDROCHLORIDE [Suspect]
     Active Substance: ZUCLOPENTHIXOL HYDROCHLORIDE
     Route: 030
     Dates: start: 20030204, end: 20040217
  572. ZUCLOPENTHIXOL HYDROCHLORIDE [Suspect]
     Active Substance: ZUCLOPENTHIXOL HYDROCHLORIDE
     Route: 030
     Dates: start: 20091009
  573. ZUCLOPENTHIXOL HYDROCHLORIDE [Suspect]
     Active Substance: ZUCLOPENTHIXOL HYDROCHLORIDE
     Indication: Schizophrenia
     Dosage: 400 MILLIGRAM, QWK
     Route: 030
  574. ZUCLOPENTHIXOL HYDROCHLORIDE [Suspect]
     Active Substance: ZUCLOPENTHIXOL HYDROCHLORIDE
     Dosage: 400 MILLIGRAM, EVERY WEEK, (ADDITIONAL INFORMATION ON DRUG (FREE TEXT): CLOZARIL ADDITIONAL INFO)
     Route: 030
  575. ZUCLOPENTHIXOL HYDROCHLORIDE [Suspect]
     Active Substance: ZUCLOPENTHIXOL HYDROCHLORIDE
     Dates: start: 20030204, end: 20040217
  576. ZUCLOPENTHIXOL HYDROCHLORIDE [Suspect]
     Active Substance: ZUCLOPENTHIXOL HYDROCHLORIDE
     Dosage: 04-FEB-2003 800 MILLIGRAM, QWK, 664000.0 MG
     Route: 030
     Dates: start: 20030204, end: 20040217
  577. ZUCLOPENTHIXOL HYDROCHLORIDE [Suspect]
     Active Substance: ZUCLOPENTHIXOL HYDROCHLORIDE
     Route: 030
     Dates: start: 20030204, end: 20040217
  578. ZUCLOPENTHIXOL HYDROCHLORIDE [Suspect]
     Active Substance: ZUCLOPENTHIXOL HYDROCHLORIDE
     Route: 030
     Dates: start: 20040217, end: 20040601
  579. ZUCLOPENTHIXOL HYDROCHLORIDE [Suspect]
     Active Substance: ZUCLOPENTHIXOL HYDROCHLORIDE
     Route: 030
     Dates: start: 20040601, end: 20041018
  580. ZUCLOPENTHIXOL HYDROCHLORIDE [Suspect]
     Active Substance: ZUCLOPENTHIXOL HYDROCHLORIDE
     Route: 030
     Dates: start: 20040901
  581. ZUCLOPENTHIXOL HYDROCHLORIDE [Suspect]
     Active Substance: ZUCLOPENTHIXOL HYDROCHLORIDE
     Route: 030
     Dates: start: 20041018
  582. ZUCLOPENTHIXOL HYDROCHLORIDE [Suspect]
     Active Substance: ZUCLOPENTHIXOL HYDROCHLORIDE
     Dosage: 18-OCT-2004 800 MILLIGRAM, QWK
     Route: 030
     Dates: start: 20041018, end: 20041018
  583. ZUCLOPENTHIXOL HYDROCHLORIDE [Suspect]
     Active Substance: ZUCLOPENTHIXOL HYDROCHLORIDE
     Route: 030
     Dates: start: 20041018, end: 20041018
  584. ZUCLOPENTHIXOL HYDROCHLORIDE [Suspect]
     Active Substance: ZUCLOPENTHIXOL HYDROCHLORIDE
     Route: 030
     Dates: start: 20041018
  585. ZUCLOPENTHIXOL HYDROCHLORIDE [Suspect]
     Active Substance: ZUCLOPENTHIXOL HYDROCHLORIDE
     Route: 030
     Dates: start: 20041018, end: 20041018
  586. ZUCLOPENTHIXOL HYDROCHLORIDE [Suspect]
     Active Substance: ZUCLOPENTHIXOL HYDROCHLORIDE
     Route: 030
     Dates: start: 20091009
  587. ZUCLOPENTHIXOL HYDROCHLORIDE [Suspect]
     Active Substance: ZUCLOPENTHIXOL HYDROCHLORIDE
     Route: 030
     Dates: start: 20091009
  588. ZUCLOPENTHIXOL HYDROCHLORIDE [Suspect]
     Active Substance: ZUCLOPENTHIXOL HYDROCHLORIDE
     Dosage: 18-OCT-2009 400 MG, Q2WK (CUMULATIVE DOSE TO FIRST REACTION: 63001.19 MG)
     Route: 030
     Dates: start: 20091018
  589. ZUCLOPENTHIXOL HYDROCHLORIDE [Suspect]
     Active Substance: ZUCLOPENTHIXOL HYDROCHLORIDE
     Route: 030
     Dates: start: 20040217, end: 20040601
  590. ZUCLOPENTHIXOL HYDROCHLORIDE [Suspect]
     Active Substance: ZUCLOPENTHIXOL HYDROCHLORIDE
     Route: 030
  591. ZUCLOPENTHIXOL HYDROCHLORIDE [Suspect]
     Active Substance: ZUCLOPENTHIXOL HYDROCHLORIDE
     Dosage: 800 MILLIGRAM, QWK 17-FEB-2004; 17-FEB-2004 00:00, (ADDITIONAL INFORMATION ON DRUG (FREE TEXT): CLOZ
     Route: 030
     Dates: start: 20040217
  592. ZUCLOPENTHIXOL HYDROCHLORIDE [Suspect]
     Active Substance: ZUCLOPENTHIXOL HYDROCHLORIDE
     Dosage: 300 MILLIGRAM, QWK, 144087.5 MG 18-OCT-2009; 18-OCT-2009 00:00
     Route: 030
  593. ZUCLOPENTHIXOL HYDROCHLORIDE [Suspect]
     Active Substance: ZUCLOPENTHIXOL HYDROCHLORIDE
     Route: 030
     Dates: start: 20091009
  594. ZUCLOPENTHIXOL HYDROCHLORIDE [Suspect]
     Active Substance: ZUCLOPENTHIXOL HYDROCHLORIDE
     Dosage: 400 MG, QWK (CUMULATIVE DOSE TO FIRST REACTION: 238288.1 MG)
     Route: 030
     Dates: start: 20040601, end: 20041018
  595. ZUCLOPENTHIXOL HYDROCHLORIDE [Suspect]
     Active Substance: ZUCLOPENTHIXOL HYDROCHLORIDE
     Dosage: 800 MG, QWK, (ADDITIONAL INFORMATION ON DRUG (FREE TEXT): CLOZARIL ADDITIONAL INFO: OFF LABEL USE; C
     Route: 030
     Dates: start: 20030204, end: 20040217
  596. ZUCLOPENTHIXOL HYDROCHLORIDE [Suspect]
     Active Substance: ZUCLOPENTHIXOL HYDROCHLORIDE
     Route: 030
     Dates: start: 20041018, end: 20041018
  597. ZUCLOPENTHIXOL HYDROCHLORIDE [Suspect]
     Active Substance: ZUCLOPENTHIXOL HYDROCHLORIDE
     Dosage: 400 MILLIGRAM, 1/WEEK, (ADDITIONAL INFORMATION ON DRUG (FREE TEXT): CLOZARIL ADDITIONAL INFO: OFF LA
     Route: 030
     Dates: start: 20030204, end: 20040217
  598. ZUCLOPENTHIXOL HYDROCHLORIDE [Suspect]
     Active Substance: ZUCLOPENTHIXOL HYDROCHLORIDE
     Dosage: 800 MILLIGRAM, 1/WEEK, (ADDITIONAL INFORMATION ON DRUG (FREE TEXT): CLOZARIL ADDITIONAL INFO: OFF LA
     Route: 030
     Dates: start: 20040601, end: 20041018
  599. ZUCLOPENTHIXOL HYDROCHLORIDE [Suspect]
     Active Substance: ZUCLOPENTHIXOL HYDROCHLORIDE
     Route: 030
  600. ZUCLOPENTHIXOL HYDROCHLORIDE [Suspect]
     Active Substance: ZUCLOPENTHIXOL HYDROCHLORIDE
     Route: 030
     Dates: start: 20040601
  601. ZUCLOPENTHIXOL HYDROCHLORIDE [Suspect]
     Active Substance: ZUCLOPENTHIXOL HYDROCHLORIDE
     Route: 030
  602. CLOZARIL [Suspect]
     Active Substance: CLOZAPINE
     Indication: Schizophrenia
     Route: 048
     Dates: start: 20191207
  603. CLOZARIL [Suspect]
     Active Substance: CLOZAPINE
     Route: 048
     Dates: start: 20191209, end: 20191223
  604. CLOZARIL [Suspect]
     Active Substance: CLOZAPINE
     Route: 065
  605. CLOZARIL [Suspect]
     Active Substance: CLOZAPINE
     Route: 048
     Dates: start: 20200521
  606. CLOZARIL [Suspect]
     Active Substance: CLOZAPINE
     Route: 048
  607. CLOZARIL [Suspect]
     Active Substance: CLOZAPINE
     Route: 065
     Dates: start: 20191223, end: 20191223
  608. CLOZARIL [Suspect]
     Active Substance: CLOZAPINE
     Route: 048
     Dates: start: 20201207
  609. CLOZARIL [Suspect]
     Active Substance: CLOZAPINE
     Route: 048
     Dates: start: 20191209, end: 20191223
  610. CLOZARIL [Suspect]
     Active Substance: CLOZAPINE
     Route: 048
     Dates: start: 20200521
  611. CLOZARIL [Suspect]
     Active Substance: CLOZAPINE
     Route: 048
     Dates: start: 20100823
  612. CLOZARIL [Suspect]
     Active Substance: CLOZAPINE
     Route: 065
  613. CLOZARIL [Suspect]
     Active Substance: CLOZAPINE
     Route: 065
  614. CLOZARIL [Suspect]
     Active Substance: CLOZAPINE
     Route: 048
     Dates: start: 2011
  615. CLOZARIL [Suspect]
     Active Substance: CLOZAPINE
     Route: 048
     Dates: start: 20191209, end: 20191223
  616. CLOZARIL [Suspect]
     Active Substance: CLOZAPINE
     Route: 048
     Dates: start: 20191223, end: 20191223
  617. CLOZARIL [Suspect]
     Active Substance: CLOZAPINE
     Route: 048
     Dates: start: 20200521
  618. CLOZARIL [Suspect]
     Active Substance: CLOZAPINE
     Route: 048
     Dates: start: 20191223
  619. CLOZARIL [Suspect]
     Active Substance: CLOZAPINE
     Route: 065
     Dates: start: 2011
  620. CLOZARIL [Suspect]
     Active Substance: CLOZAPINE
     Route: 065
  621. CLOZARIL [Suspect]
     Active Substance: CLOZAPINE
     Route: 065
     Dates: start: 2011
  622. CLOZARIL [Suspect]
     Active Substance: CLOZAPINE
     Route: 048
     Dates: start: 20191209, end: 20191223
  623. CLOZARIL [Suspect]
     Active Substance: CLOZAPINE
     Route: 065
     Dates: start: 20200521
  624. CLOZARIL [Suspect]
     Active Substance: CLOZAPINE
     Route: 065
     Dates: start: 20200521
  625. CLOZARIL [Suspect]
     Active Substance: CLOZAPINE
     Route: 048
     Dates: start: 20100823, end: 20100823
  626. CLOZARIL [Suspect]
     Active Substance: CLOZAPINE
     Route: 048
  627. CLOZARIL [Suspect]
     Active Substance: CLOZAPINE
     Route: 048
     Dates: start: 20200521, end: 20201223
  628. CLOZARIL [Suspect]
     Active Substance: CLOZAPINE
     Route: 048
  629. CLOZARIL [Suspect]
     Active Substance: CLOZAPINE
     Dates: start: 20200521
  630. CLOZARIL [Suspect]
     Active Substance: CLOZAPINE
     Route: 048
     Dates: start: 20191209, end: 20191223
  631. CLOZARIL [Suspect]
     Active Substance: CLOZAPINE
     Route: 065
  632. CLOZARIL [Suspect]
     Active Substance: CLOZAPINE
     Route: 065
  633. CLOZARIL [Suspect]
     Active Substance: CLOZAPINE
  634. CLOZARIL [Suspect]
     Active Substance: CLOZAPINE
     Route: 048
     Dates: start: 20100823
  635. CLOZARIL [Suspect]
     Active Substance: CLOZAPINE
     Route: 048
  636. CLOZARIL [Suspect]
     Active Substance: CLOZAPINE
     Route: 048
  637. CLOZARIL [Suspect]
     Active Substance: CLOZAPINE
     Route: 048
  638. CLOZARIL [Suspect]
     Active Substance: CLOZAPINE
     Route: 048
  639. CLOZARIL [Suspect]
     Active Substance: CLOZAPINE
     Route: 065
  640. CLOZARIL [Suspect]
     Active Substance: CLOZAPINE
     Route: 048
     Dates: start: 20191209, end: 20191223
  641. CLOZARIL [Suspect]
     Active Substance: CLOZAPINE
     Route: 065
  642. CLOZARIL [Suspect]
     Active Substance: CLOZAPINE
     Route: 065
     Dates: start: 20191207
  643. CLOZARIL [Suspect]
     Active Substance: CLOZAPINE
     Route: 048
  644. CLOZARIL [Suspect]
     Active Substance: CLOZAPINE
     Route: 048
     Dates: start: 20191209, end: 20191223
  645. CLOZARIL [Suspect]
     Active Substance: CLOZAPINE
     Route: 048
  646. CLOZARIL [Suspect]
     Active Substance: CLOZAPINE
     Route: 065
     Dates: start: 20191223, end: 20191223
  647. CLOZARIL [Suspect]
     Active Substance: CLOZAPINE
     Route: 048
     Dates: start: 20191209, end: 20191223
  648. CLOZARIL [Suspect]
     Active Substance: CLOZAPINE
     Route: 048
     Dates: start: 20201207
  649. CLOZARIL [Suspect]
     Active Substance: CLOZAPINE
     Route: 048
     Dates: start: 20191209, end: 20191223
  650. CLOZARIL [Suspect]
     Active Substance: CLOZAPINE
     Route: 048
     Dates: start: 20100823, end: 20100823
  651. CLOZARIL [Suspect]
     Active Substance: CLOZAPINE
     Route: 065
  652. CLOZARIL [Suspect]
     Active Substance: CLOZAPINE
     Indication: Schizophrenia
  653. CLOZARIL [Suspect]
     Active Substance: CLOZAPINE
     Route: 048
     Dates: start: 20191223, end: 20191223
  654. CLOZARIL [Suspect]
     Active Substance: CLOZAPINE
  655. CLOZARIL [Suspect]
     Active Substance: CLOZAPINE
     Route: 048
     Dates: start: 20201207
  656. CLOZARIL [Suspect]
     Active Substance: CLOZAPINE
     Dates: start: 20191209, end: 20191223
  657. CLOZARIL [Suspect]
     Active Substance: CLOZAPINE
     Route: 048
     Dates: start: 20100823
  658. CLOZARIL [Suspect]
     Active Substance: CLOZAPINE
  659. CLOZARIL [Suspect]
     Active Substance: CLOZAPINE
  660. CLOZARIL [Suspect]
     Active Substance: CLOZAPINE
     Route: 048
     Dates: start: 20191223, end: 20191223
  661. CLOZARIL [Suspect]
     Active Substance: CLOZAPINE
     Dates: start: 20191209, end: 20191223
  662. CLOZARIL [Suspect]
     Active Substance: CLOZAPINE
     Dates: start: 20201207
  663. CLOZARIL [Suspect]
     Active Substance: CLOZAPINE
     Dates: start: 20200521
  664. CLOZARIL [Suspect]
     Active Substance: CLOZAPINE
     Dates: start: 20200521
  665. CLOZARIL [Suspect]
     Active Substance: CLOZAPINE
  666. CLOZARIL [Suspect]
     Active Substance: CLOZAPINE
     Dates: start: 2011
  667. CLOZARIL [Suspect]
     Active Substance: CLOZAPINE
     Dates: start: 2011
  668. CLOZARIL [Suspect]
     Active Substance: CLOZAPINE
  669. CLOZARIL [Suspect]
     Active Substance: CLOZAPINE
     Route: 048
  670. CLOZARIL [Suspect]
     Active Substance: CLOZAPINE
  671. CLOZARIL [Suspect]
     Active Substance: CLOZAPINE
  672. CLOZARIL [Suspect]
     Active Substance: CLOZAPINE
  673. CLOZARIL [Suspect]
     Active Substance: CLOZAPINE
  674. CLOZARIL [Suspect]
     Active Substance: CLOZAPINE
  675. CLOZARIL [Suspect]
     Active Substance: CLOZAPINE
     Route: 048
     Dates: start: 20200521
  676. CLOZARIL [Suspect]
     Active Substance: CLOZAPINE
     Dates: start: 20191209, end: 20191223
  677. CLOZARIL [Suspect]
     Active Substance: CLOZAPINE
  678. CLOZARIL [Suspect]
     Active Substance: CLOZAPINE
  679. CLOZARIL [Suspect]
     Active Substance: CLOZAPINE
     Route: 065
  680. CLOZARIL [Suspect]
     Active Substance: CLOZAPINE
     Dates: start: 20191223, end: 20191223
  681. CLOZARIL [Suspect]
     Active Substance: CLOZAPINE
     Dates: start: 20191209, end: 20191223
  682. CLOZARIL [Suspect]
     Active Substance: CLOZAPINE
  683. CLOZARIL [Suspect]
     Active Substance: CLOZAPINE
  684. CLOZARIL [Suspect]
     Active Substance: CLOZAPINE
  685. CLOZARIL [Suspect]
     Active Substance: CLOZAPINE
     Dates: start: 20100823
  686. CLOZARIL [Suspect]
     Active Substance: CLOZAPINE
     Route: 065
  687. CLOZARIL [Suspect]
     Active Substance: CLOZAPINE
  688. CLOZARIL [Suspect]
     Active Substance: CLOZAPINE
  689. CLOZARIL [Suspect]
     Active Substance: CLOZAPINE
  690. CLOZARIL [Suspect]
     Active Substance: CLOZAPINE
  691. CLOZARIL [Suspect]
     Active Substance: CLOZAPINE
  692. CLOZARIL [Suspect]
     Active Substance: CLOZAPINE
  693. CLOZARIL [Suspect]
     Active Substance: CLOZAPINE
     Dates: start: 20200521
  694. CLOZARIL [Suspect]
     Active Substance: CLOZAPINE
     Dates: start: 20191209, end: 20191223
  695. CLOZARIL [Suspect]
     Active Substance: CLOZAPINE
  696. CLOZARIL [Suspect]
     Active Substance: CLOZAPINE
  697. CLOZARIL [Suspect]
     Active Substance: CLOZAPINE
  698. CLOZARIL [Suspect]
     Active Substance: CLOZAPINE
  699. CLOZARIL [Suspect]
     Active Substance: CLOZAPINE
     Dates: start: 20191223, end: 20191223
  700. CLOZARIL [Suspect]
     Active Substance: CLOZAPINE
  701. CLOZARIL [Suspect]
     Active Substance: CLOZAPINE
     Dates: start: 20200521, end: 20201223
  702. CLOZARIL [Suspect]
     Active Substance: CLOZAPINE
     Indication: Product used for unknown indication
     Route: 048
     Dates: start: 20200521
  703. CLOZARIL [Suspect]
     Active Substance: CLOZAPINE
     Route: 048
     Dates: start: 20191207
  704. CLOZARIL [Suspect]
     Active Substance: CLOZAPINE
     Route: 048
     Dates: start: 2011
  705. CLOZARIL [Suspect]
     Active Substance: CLOZAPINE
     Route: 048
  706. CLOZARIL [Suspect]
     Active Substance: CLOZAPINE
     Route: 048
     Dates: start: 20200521, end: 20200521
  707. CLOZARIL [Suspect]
     Active Substance: CLOZAPINE
     Route: 048
  708. CLOZARIL [Suspect]
     Active Substance: CLOZAPINE
     Route: 048
     Dates: start: 20191209, end: 20191223
  709. CLOZARIL [Suspect]
     Active Substance: CLOZAPINE
     Route: 048
     Dates: start: 20201207
  710. CLOZARIL [Suspect]
     Active Substance: CLOZAPINE
     Route: 048
  711. CLOZARIL [Suspect]
     Active Substance: CLOZAPINE
     Route: 048
     Dates: start: 20191209, end: 20191223
  712. CLOZARIL [Suspect]
     Active Substance: CLOZAPINE
     Route: 048
     Dates: start: 20100823
  713. CLOZARIL [Suspect]
     Active Substance: CLOZAPINE
     Route: 048
     Dates: start: 20191223, end: 20191223
  714. CLOZARIL [Suspect]
     Active Substance: CLOZAPINE
     Route: 048
     Dates: start: 2011
  715. CLOZARIL [Suspect]
     Active Substance: CLOZAPINE
     Route: 048
  716. CLOZARIL [Suspect]
     Active Substance: CLOZAPINE
     Route: 048
     Dates: start: 20100823, end: 20100823
  717. CLOZARIL [Suspect]
     Active Substance: CLOZAPINE
     Route: 048
     Dates: start: 20200521
  718. CLOZARIL [Suspect]
     Active Substance: CLOZAPINE
     Route: 048
     Dates: start: 20200823
  719. CLOZARIL [Suspect]
     Active Substance: CLOZAPINE
     Route: 048
     Dates: start: 20200521, end: 20200521
  720. CLOZARIL [Suspect]
     Active Substance: CLOZAPINE
     Route: 048
     Dates: start: 20191209, end: 20191223
  721. CLOZARIL [Suspect]
     Active Substance: CLOZAPINE
     Route: 048
     Dates: start: 20191209, end: 20191223
  722. CLOZARIL [Suspect]
     Active Substance: CLOZAPINE
     Route: 048
     Dates: start: 20191223, end: 20191223
  723. CLOZARIL [Suspect]
     Active Substance: CLOZAPINE
     Route: 048
     Dates: start: 20191209, end: 20191223
  724. CLOZARIL [Suspect]
     Active Substance: CLOZAPINE
     Route: 048
     Dates: start: 20191209, end: 20191223
  725. CLOZARIL [Suspect]
     Active Substance: CLOZAPINE
     Route: 048
  726. CLOZARIL [Suspect]
     Active Substance: CLOZAPINE
     Route: 048
     Dates: start: 20201207
  727. CLOZARIL [Suspect]
     Active Substance: CLOZAPINE
     Route: 048
  728. CLOZARIL [Suspect]
     Active Substance: CLOZAPINE
     Dates: start: 2011
  729. CLOZARIL [Suspect]
     Active Substance: CLOZAPINE
     Route: 048
     Dates: start: 20200521
  730. CLOZARIL [Suspect]
     Active Substance: CLOZAPINE
     Route: 048
     Dates: start: 20191209, end: 20191223
  731. CLOZARIL [Suspect]
     Active Substance: CLOZAPINE
     Route: 048
     Dates: start: 20191223, end: 20191223
  732. CLOZARIL [Suspect]
     Active Substance: CLOZAPINE
     Route: 048
     Dates: start: 20191223, end: 20191223
  733. CLOZARIL [Suspect]
     Active Substance: CLOZAPINE
     Route: 048
     Dates: start: 20100823, end: 20100823
  734. CLOZARIL [Suspect]
     Active Substance: CLOZAPINE
     Route: 048
     Dates: start: 20200823, end: 20200823
  735. CLOZARIL [Suspect]
     Active Substance: CLOZAPINE
     Route: 048
     Dates: start: 20200521
  736. CLOZARIL [Suspect]
     Active Substance: CLOZAPINE
  737. CLOZARIL [Suspect]
     Active Substance: CLOZAPINE
     Route: 050
     Dates: start: 20100823
  738. CLOZARIL [Suspect]
     Active Substance: CLOZAPINE
     Route: 048
     Dates: start: 2011
  739. CLOZARIL [Suspect]
     Active Substance: CLOZAPINE
  740. CLOZARIL [Suspect]
     Active Substance: CLOZAPINE
     Dates: start: 20100823
  741. CLOZARIL [Suspect]
     Active Substance: CLOZAPINE
     Route: 048
  742. CLOZARIL [Suspect]
     Active Substance: CLOZAPINE
     Dates: start: 20191207, end: 20191223
  743. CLOZARIL [Suspect]
     Active Substance: CLOZAPINE
  744. CLOZARIL [Suspect]
     Active Substance: CLOZAPINE
  745. CLOZARIL [Suspect]
     Active Substance: CLOZAPINE
     Dates: start: 20191223, end: 20191223
  746. CLOZARIL [Suspect]
     Active Substance: CLOZAPINE
     Route: 050
     Dates: start: 20191209, end: 20191223
  747. CLOZARIL [Suspect]
     Active Substance: CLOZAPINE
     Route: 048
     Dates: start: 20201209, end: 20201223
  748. CLOZARIL [Suspect]
     Active Substance: CLOZAPINE
     Route: 048
     Dates: start: 20100823
  749. CLOZARIL [Suspect]
     Active Substance: CLOZAPINE
     Route: 048
     Dates: start: 20190823, end: 20190823
  750. CLOZARIL [Suspect]
     Active Substance: CLOZAPINE
     Route: 048
     Dates: start: 20200521
  751. CLOZARIL [Suspect]
     Active Substance: CLOZAPINE
     Route: 048
     Dates: start: 20200207
  752. CLOZARIL [Suspect]
     Active Substance: CLOZAPINE
     Indication: Product used for unknown indication
  753. CLOZARIL [Suspect]
     Active Substance: CLOZAPINE
     Dates: start: 20200521
  754. CLOZARIL [Suspect]
     Active Substance: CLOZAPINE
  755. CLOZARIL [Suspect]
     Active Substance: CLOZAPINE
     Route: 048
     Dates: start: 20191207
  756. CLOZARIL [Suspect]
     Active Substance: CLOZAPINE
     Route: 048
     Dates: start: 20191223, end: 20191223
  757. CLOZARIL [Suspect]
     Active Substance: CLOZAPINE
     Route: 048
     Dates: start: 20191209, end: 20191223
  758. CLOZARIL [Suspect]
     Active Substance: CLOZAPINE
     Route: 048
  759. CLOZARIL [Suspect]
     Active Substance: CLOZAPINE
  760. CLOZARIL [Suspect]
     Active Substance: CLOZAPINE
     Dates: start: 20191209, end: 20191223
  761. CLOZARIL [Suspect]
     Active Substance: CLOZAPINE
     Route: 048
     Dates: start: 20201207
  762. CLOZARIL [Suspect]
     Active Substance: CLOZAPINE
  763. CLOZARIL [Suspect]
     Active Substance: CLOZAPINE
     Route: 065
  764. CLOZARIL [Suspect]
     Active Substance: CLOZAPINE
     Route: 048
     Dates: start: 20220719
  765. CLOZARIL [Suspect]
     Active Substance: CLOZAPINE
  766. CLOZARIL [Suspect]
     Active Substance: CLOZAPINE
     Dates: start: 20201207
  767. CLOZARIL [Suspect]
     Active Substance: CLOZAPINE
  768. CLOZARIL [Suspect]
     Active Substance: CLOZAPINE
  769. CLOZARIL [Suspect]
     Active Substance: CLOZAPINE
  770. CLOZARIL [Suspect]
     Active Substance: CLOZAPINE
  771. CLOZARIL [Suspect]
     Active Substance: CLOZAPINE
  772. CLOZARIL [Suspect]
     Active Substance: CLOZAPINE
     Dates: start: 20201207
  773. CLOZARIL [Suspect]
     Active Substance: CLOZAPINE
     Dates: start: 20191209, end: 20191223
  774. CLOZARIL [Suspect]
     Active Substance: CLOZAPINE
     Route: 048
  775. CLOZARIL [Suspect]
     Active Substance: CLOZAPINE
  776. CLOZARIL [Suspect]
     Active Substance: CLOZAPINE
     Route: 065
  777. CLOZARIL [Suspect]
     Active Substance: CLOZAPINE
  778. CLOZARIL [Suspect]
     Active Substance: CLOZAPINE
  779. CLOZARIL [Suspect]
     Active Substance: CLOZAPINE
  780. CLOZARIL [Suspect]
     Active Substance: CLOZAPINE
     Route: 048
     Dates: start: 20191209, end: 20191223
  781. CLOZARIL [Suspect]
     Active Substance: CLOZAPINE
  782. CLOZARIL [Suspect]
     Active Substance: CLOZAPINE
  783. CLOZARIL [Suspect]
     Active Substance: CLOZAPINE
  784. CLOZARIL [Suspect]
     Active Substance: CLOZAPINE
     Route: 048
     Dates: start: 20191209, end: 20191223
  785. CLOZARIL [Suspect]
     Active Substance: CLOZAPINE
  786. CLOZARIL [Suspect]
     Active Substance: CLOZAPINE
     Dates: start: 20150930, end: 20151021
  787. CLOZARIL [Suspect]
     Active Substance: CLOZAPINE
     Route: 048
     Dates: start: 20100823
  788. CLOZARIL [Suspect]
     Active Substance: CLOZAPINE
     Route: 048
     Dates: start: 20191223, end: 20191223
  789. CLOZARIL [Suspect]
     Active Substance: CLOZAPINE
     Route: 048
     Dates: start: 20191209, end: 20191223
  790. CLOZARIL [Suspect]
     Active Substance: CLOZAPINE
     Dates: start: 20191223, end: 20191223
  791. CLOZARIL [Suspect]
     Active Substance: CLOZAPINE
  792. CLOZARIL [Suspect]
     Active Substance: CLOZAPINE
     Dates: start: 20191209, end: 20191223
  793. CLOZARIL [Suspect]
     Active Substance: CLOZAPINE
     Route: 065
  794. CLOZARIL [Suspect]
     Active Substance: CLOZAPINE
     Route: 048
  795. CLOZARIL [Suspect]
     Active Substance: CLOZAPINE
     Route: 048
     Dates: start: 2011
  796. CLOZARIL [Suspect]
     Active Substance: CLOZAPINE
     Route: 048
  797. CLOZARIL [Suspect]
     Active Substance: CLOZAPINE
     Route: 048
     Dates: start: 20201207
  798. CLOZARIL [Suspect]
     Active Substance: CLOZAPINE
     Route: 048
     Dates: start: 20201223, end: 20201223
  799. CLOZARIL [Suspect]
     Active Substance: CLOZAPINE
     Route: 048
     Dates: start: 20191223, end: 20191223
  800. CLOZARIL [Suspect]
     Active Substance: CLOZAPINE
     Route: 048
     Dates: start: 20191209
  801. CLOZARIL [Suspect]
     Active Substance: CLOZAPINE
     Route: 048
     Dates: start: 20201207
  802. CLOZARIL [Suspect]
     Active Substance: CLOZAPINE
     Indication: Schizophrenia
     Route: 048
     Dates: start: 20191209, end: 20191223
  803. CLOZARIL [Suspect]
     Active Substance: CLOZAPINE
     Indication: Schizophrenia
     Route: 048
     Dates: start: 2011
  804. CLOZARIL [Suspect]
     Active Substance: CLOZAPINE
     Route: 048
     Dates: start: 20201207
  805. CLOZARIL [Suspect]
     Active Substance: CLOZAPINE
     Route: 048
  806. CLOZARIL [Suspect]
     Active Substance: CLOZAPINE
  807. CLOZARIL [Suspect]
     Active Substance: CLOZAPINE
     Route: 048
     Dates: start: 20191209, end: 20191223
  808. CLOZARIL [Suspect]
     Active Substance: CLOZAPINE
     Route: 048
     Dates: start: 20191209, end: 20191223
  809. CLOZARIL [Suspect]
     Active Substance: CLOZAPINE
     Route: 048
     Dates: start: 20191209, end: 20191223
  810. CLOZARIL [Suspect]
     Active Substance: CLOZAPINE
     Route: 048
     Dates: start: 20201207
  811. CLOZARIL [Suspect]
     Active Substance: CLOZAPINE
     Dates: start: 20191207
  812. CLOZARIL [Suspect]
     Active Substance: CLOZAPINE
     Route: 048
     Dates: start: 20200521
  813. CLOZARIL [Suspect]
     Active Substance: CLOZAPINE
     Route: 048
     Dates: start: 2011
  814. CLOZARIL [Suspect]
     Active Substance: CLOZAPINE
     Route: 048
     Dates: start: 2011
  815. CLOZARIL [Suspect]
     Active Substance: CLOZAPINE
     Route: 048
     Dates: start: 20191223, end: 20191223
  816. CLOZARIL [Suspect]
     Active Substance: CLOZAPINE
     Route: 048
  817. CLOZARIL [Suspect]
     Active Substance: CLOZAPINE
     Route: 048
     Dates: start: 20191209, end: 20191223
  818. CLOZARIL [Suspect]
     Active Substance: CLOZAPINE
     Route: 048
  819. CLOZARIL [Suspect]
     Active Substance: CLOZAPINE
     Route: 048
     Dates: start: 20100823
  820. CLOZARIL [Suspect]
     Active Substance: CLOZAPINE
  821. CLOZARIL [Suspect]
     Active Substance: CLOZAPINE
     Route: 048
     Dates: start: 20100823, end: 20100823
  822. CLOZARIL [Suspect]
     Active Substance: CLOZAPINE
     Route: 048
  823. CLOZARIL [Suspect]
     Active Substance: CLOZAPINE
     Route: 048
     Dates: start: 20200521
  824. CLOZARIL [Suspect]
     Active Substance: CLOZAPINE
     Route: 048
     Dates: start: 2011
  825. CLOZARIL [Suspect]
     Active Substance: CLOZAPINE
     Route: 048
     Dates: start: 20100823
  826. CLOZARIL [Suspect]
     Active Substance: CLOZAPINE
     Route: 048
     Dates: start: 20200521
  827. CLOZARIL [Suspect]
     Active Substance: CLOZAPINE
     Route: 048
     Dates: start: 20100823
  828. CLOZARIL [Suspect]
     Active Substance: CLOZAPINE
  829. CLOZARIL [Suspect]
     Active Substance: CLOZAPINE
     Route: 048
     Dates: start: 20191209, end: 20191223
  830. CLOZARIL [Suspect]
     Active Substance: CLOZAPINE
     Route: 048
  831. CLOZARIL [Suspect]
     Active Substance: CLOZAPINE
     Route: 048
     Dates: start: 20190823, end: 20190823
  832. CLOZARIL [Suspect]
     Active Substance: CLOZAPINE
     Route: 048
  833. CLOZARIL [Suspect]
     Active Substance: CLOZAPINE
     Route: 048
     Dates: start: 20191223, end: 20191223
  834. CLOZARIL [Suspect]
     Active Substance: CLOZAPINE
     Route: 048
  835. CLOZARIL [Suspect]
     Active Substance: CLOZAPINE
     Route: 048
     Dates: start: 20191223, end: 20191223
  836. CLOZARIL [Suspect]
     Active Substance: CLOZAPINE
  837. CLOZARIL [Suspect]
     Active Substance: CLOZAPINE
     Route: 048
     Dates: start: 20100823
  838. CLOZARIL [Suspect]
     Active Substance: CLOZAPINE
     Route: 048
     Dates: start: 20201207
  839. CLOZARIL [Suspect]
     Active Substance: CLOZAPINE
     Route: 048
     Dates: start: 20200207
  840. CLOZARIL [Suspect]
     Active Substance: CLOZAPINE
     Route: 048
     Dates: start: 20190809, end: 20190823
  841. CLOZARIL [Suspect]
     Active Substance: CLOZAPINE
     Route: 048
     Dates: start: 20191207, end: 20191223
  842. CLOZARIL [Suspect]
     Active Substance: CLOZAPINE
     Route: 048
  843. CLOZARIL [Suspect]
     Active Substance: CLOZAPINE
     Route: 048
     Dates: start: 20200521, end: 2021
  844. CLOZARIL [Suspect]
     Active Substance: CLOZAPINE
     Route: 048
     Dates: start: 20201223, end: 20201223
  845. CLOZARIL [Suspect]
     Active Substance: CLOZAPINE
     Route: 048
  846. CLOZARIL [Suspect]
     Active Substance: CLOZAPINE
  847. CLOZARIL [Suspect]
     Active Substance: CLOZAPINE
     Route: 048
     Dates: start: 2011
  848. CLOZARIL [Suspect]
     Active Substance: CLOZAPINE
     Route: 048
     Dates: start: 20100823, end: 20100823
  849. CLOZARIL [Suspect]
     Active Substance: CLOZAPINE
     Dates: start: 20100823, end: 20100823
  850. CLOZARIL [Suspect]
     Active Substance: CLOZAPINE
     Route: 048
     Dates: start: 2011
  851. CLOZARIL [Suspect]
     Active Substance: CLOZAPINE
     Route: 048
  852. CLOZARIL [Suspect]
     Active Substance: CLOZAPINE
     Indication: Schizophrenia
     Route: 050
     Dates: start: 20191209, end: 20191223
  853. CLOZARIL [Suspect]
     Active Substance: CLOZAPINE
  854. CLOZARIL [Suspect]
     Active Substance: CLOZAPINE
  855. CLOZARIL [Suspect]
     Active Substance: CLOZAPINE
  856. CLOZARIL [Suspect]
     Active Substance: CLOZAPINE
  857. CLOZARIL [Suspect]
     Active Substance: CLOZAPINE
  858. CLOZARIL [Suspect]
     Active Substance: CLOZAPINE
     Route: 048
     Dates: start: 20191207
  859. CLOZARIL [Suspect]
     Active Substance: CLOZAPINE
     Route: 048
     Dates: start: 20191209, end: 20191223
  860. CLOZARIL [Suspect]
     Active Substance: CLOZAPINE
     Route: 048
     Dates: start: 20191223, end: 20191223
  861. CLOZARIL [Suspect]
     Active Substance: CLOZAPINE
  862. CLOZARIL [Suspect]
     Active Substance: CLOZAPINE
     Route: 048
     Dates: start: 20100823
  863. CLOZARIL [Suspect]
     Active Substance: CLOZAPINE
     Dates: start: 20100823, end: 20100823
  864. CLOZARIL [Suspect]
     Active Substance: CLOZAPINE
     Dates: start: 20100823, end: 20200823
  865. CLOZARIL [Suspect]
     Active Substance: CLOZAPINE
     Dates: start: 20100823, end: 20100823
  866. CLOZARIL [Suspect]
     Active Substance: CLOZAPINE
     Dates: start: 20100823
  867. CLOZARIL [Suspect]
     Active Substance: CLOZAPINE
     Dates: start: 2011
  868. CLOZARIL [Suspect]
     Active Substance: CLOZAPINE
     Dates: start: 2011
  869. CLOZARIL [Suspect]
     Active Substance: CLOZAPINE
     Dates: start: 2011
  870. CLOZARIL [Suspect]
     Active Substance: CLOZAPINE
     Route: 050
     Dates: start: 20100823, end: 20100823
  871. CLOZARIL [Suspect]
     Active Substance: CLOZAPINE
     Dates: start: 20191207
  872. CLOZARIL [Suspect]
     Active Substance: CLOZAPINE
     Dates: start: 20191209, end: 20191223
  873. CLOZARIL [Suspect]
     Active Substance: CLOZAPINE
     Dates: start: 20191209, end: 20191223
  874. CLOZARIL [Suspect]
     Active Substance: CLOZAPINE
     Dates: start: 20191209, end: 20191223
  875. CLOZARIL [Suspect]
     Active Substance: CLOZAPINE
     Dates: start: 20100823, end: 20200823
  876. CLOZARIL [Suspect]
     Active Substance: CLOZAPINE
     Route: 048
     Dates: start: 20191209, end: 20191223
  877. CLOZARIL [Suspect]
     Active Substance: CLOZAPINE
     Route: 050
     Dates: start: 20191223, end: 20191223
  878. CLOZARIL [Suspect]
     Active Substance: CLOZAPINE
     Dates: start: 20191223, end: 20191223
  879. CLOZARIL [Suspect]
     Active Substance: CLOZAPINE
     Dates: start: 20191223
  880. CLOZARIL [Suspect]
     Active Substance: CLOZAPINE
     Dates: start: 20200521
  881. CLOZARIL [Suspect]
     Active Substance: CLOZAPINE
     Dates: start: 20200521
  882. CLOZARIL [Suspect]
     Active Substance: CLOZAPINE
     Dates: start: 20200521
  883. CLOZARIL [Suspect]
     Active Substance: CLOZAPINE
     Route: 050
     Dates: start: 20200521
  884. CLOZARIL [Suspect]
     Active Substance: CLOZAPINE
     Dates: start: 20200521
  885. CLOZARIL [Suspect]
     Active Substance: CLOZAPINE
     Dates: start: 20200521
  886. CLOZARIL [Suspect]
     Active Substance: CLOZAPINE
     Dates: start: 20200521
  887. CLOZARIL [Suspect]
     Active Substance: CLOZAPINE
     Dates: start: 20201207
  888. CLOZARIL [Suspect]
     Active Substance: CLOZAPINE
     Route: 050
     Dates: start: 20201207
  889. CLOZARIL [Suspect]
     Active Substance: CLOZAPINE
     Dates: start: 20201207
  890. CLOZARIL [Suspect]
     Active Substance: CLOZAPINE
     Dates: start: 20210521
  891. CLOZARIL [Suspect]
     Active Substance: CLOZAPINE
     Dates: start: 20220719
  892. CLOZARIL [Suspect]
     Active Substance: CLOZAPINE
     Dates: start: 20220719
  893. CLOZARIL [Suspect]
     Active Substance: CLOZAPINE
     Dates: start: 20230823
  894. CLOZARIL [Suspect]
     Active Substance: CLOZAPINE
     Route: 065
     Dates: start: 20100823
  895. CLOZARIL [Suspect]
     Active Substance: CLOZAPINE
     Route: 050
     Dates: start: 20230823, end: 20230823
  896. CLOZARIL [Suspect]
     Active Substance: CLOZAPINE
     Route: 050
     Dates: start: 20230823
  897. CLOZARIL [Suspect]
     Active Substance: CLOZAPINE
     Dates: start: 20220719
  898. CLOZARIL [Suspect]
     Active Substance: CLOZAPINE
     Route: 048
  899. CLOZARIL [Suspect]
     Active Substance: CLOZAPINE
     Route: 050
     Dates: start: 20191209, end: 20191223
  900. CLOZARIL [Suspect]
     Active Substance: CLOZAPINE
     Route: 050
     Dates: start: 20200521
  901. CLOZARIL [Suspect]
     Active Substance: CLOZAPINE
     Dates: start: 20201207
  902. CLOZARIL [Suspect]
     Active Substance: CLOZAPINE
     Indication: Product used for unknown indication
     Route: 048
     Dates: start: 20201209, end: 20201223
  903. CLOZARIL [Suspect]
     Active Substance: CLOZAPINE
     Indication: Schizophrenia
     Route: 048
     Dates: start: 20191223, end: 20191223
  904. CLOZARIL [Suspect]
     Active Substance: CLOZAPINE
     Route: 048
     Dates: start: 2011
  905. CLOZARIL [Suspect]
     Active Substance: CLOZAPINE
     Route: 048
     Dates: start: 20190809, end: 20190823
  906. CLOZARIL [Suspect]
     Active Substance: CLOZAPINE
     Route: 048
     Dates: start: 20201209, end: 20201223
  907. CLOZARIL [Suspect]
     Active Substance: CLOZAPINE
     Route: 048
     Dates: start: 20190823, end: 20190823
  908. CLOZARIL [Suspect]
     Active Substance: CLOZAPINE
     Route: 048
     Dates: start: 20200207
  909. CLOZARIL [Suspect]
     Active Substance: CLOZAPINE
     Route: 048
     Dates: start: 20191207
  910. CLOZARIL [Suspect]
     Active Substance: CLOZAPINE
     Route: 048
     Dates: start: 20191209, end: 20191223
  911. CLOZARIL [Suspect]
     Active Substance: CLOZAPINE
     Route: 048
     Dates: start: 20191207, end: 20191223
  912. CLOZARIL [Suspect]
     Active Substance: CLOZAPINE
     Route: 048
     Dates: start: 20190823, end: 20190823
  913. CLOZARIL [Suspect]
     Active Substance: CLOZAPINE
     Route: 048
     Dates: start: 20191223, end: 20191223
  914. CLOZARIL [Suspect]
     Active Substance: CLOZAPINE
     Route: 048
     Dates: start: 2011
  915. CLOZARIL [Suspect]
     Active Substance: CLOZAPINE
     Route: 048
     Dates: start: 20191209, end: 20191223
  916. CLOZARIL [Suspect]
     Active Substance: CLOZAPINE
     Route: 048
     Dates: start: 20201223, end: 20201223
  917. CLOZARIL [Suspect]
     Active Substance: CLOZAPINE
     Route: 048
     Dates: start: 20191209, end: 20191223
  918. CLOZARIL [Suspect]
     Active Substance: CLOZAPINE
     Route: 048
     Dates: start: 20191223, end: 20191223
  919. CLOZARIL [Suspect]
     Active Substance: CLOZAPINE
     Route: 048
     Dates: start: 2011
  920. CLOZARIL [Suspect]
     Active Substance: CLOZAPINE
     Route: 048
     Dates: start: 20100823
  921. CLOZARIL [Suspect]
     Active Substance: CLOZAPINE
     Route: 048
     Dates: start: 20191209, end: 20191223
  922. CLOZARIL [Suspect]
     Active Substance: CLOZAPINE
     Route: 048
     Dates: start: 20191209, end: 20191223
  923. CLOZARIL [Suspect]
     Active Substance: CLOZAPINE
     Route: 048
     Dates: start: 20201207
  924. CLOZARIL [Suspect]
     Active Substance: CLOZAPINE
     Route: 048
     Dates: start: 20200521, end: 20200521
  925. CLOZARIL [Suspect]
     Active Substance: CLOZAPINE
     Route: 048
     Dates: start: 20200521
  926. CLOZARIL [Suspect]
     Active Substance: CLOZAPINE
     Route: 048
     Dates: start: 20200521
  927. CLOZARIL [Suspect]
     Active Substance: CLOZAPINE
     Route: 048
     Dates: start: 20200521
  928. CLOZARIL [Suspect]
     Active Substance: CLOZAPINE
     Route: 048
     Dates: start: 20200207
  929. CLOZARIL [Suspect]
     Active Substance: CLOZAPINE
     Route: 048
     Dates: start: 20191207
  930. CLOZARIL [Suspect]
     Active Substance: CLOZAPINE
     Route: 048
     Dates: start: 20100823
  931. CLOZARIL [Suspect]
     Active Substance: CLOZAPINE
     Route: 048
     Dates: start: 20191223, end: 20191223
  932. CLOZARIL [Suspect]
     Active Substance: CLOZAPINE
     Route: 048
     Dates: start: 20200521
  933. CLOZARIL [Suspect]
     Active Substance: CLOZAPINE
     Route: 048
     Dates: start: 20200521, end: 2021
  934. CLOZARIL [Suspect]
     Active Substance: CLOZAPINE
     Route: 048
     Dates: start: 2011
  935. CLOZARIL [Suspect]
     Active Substance: CLOZAPINE
     Route: 048
     Dates: start: 20200521
  936. CLOZARIL [Suspect]
     Active Substance: CLOZAPINE
     Route: 048
  937. CLOZARIL [Suspect]
     Active Substance: CLOZAPINE
     Route: 048
     Dates: start: 20201207
  938. CLOZARIL [Suspect]
     Active Substance: CLOZAPINE
     Route: 048
  939. CLOZARIL [Suspect]
     Active Substance: CLOZAPINE
     Dates: start: 2011
  940. CLOZARIL [Suspect]
     Active Substance: CLOZAPINE
     Route: 048
     Dates: start: 20191209, end: 20191223
  941. CLOZARIL [Suspect]
     Active Substance: CLOZAPINE
  942. CLOZARIL [Suspect]
     Active Substance: CLOZAPINE
     Route: 048
  943. CLOZARIL [Suspect]
     Active Substance: CLOZAPINE
     Route: 048
  944. CLOZARIL [Suspect]
     Active Substance: CLOZAPINE
     Route: 048
  945. CLOZARIL [Suspect]
     Active Substance: CLOZAPINE
     Dates: start: 20191209, end: 20191223
  946. CLOZARIL [Suspect]
     Active Substance: CLOZAPINE
     Route: 048
  947. CLOZARIL [Suspect]
     Active Substance: CLOZAPINE
     Route: 048
     Dates: start: 20100823
  948. CLOZARIL [Suspect]
     Active Substance: CLOZAPINE
     Route: 048
  949. CLOZARIL [Suspect]
     Active Substance: CLOZAPINE
     Route: 048
     Dates: start: 20201209, end: 20201223
  950. CLOZARIL [Suspect]
     Active Substance: CLOZAPINE
     Route: 048
     Dates: start: 20191209, end: 20191223
  951. CLOZARIL [Suspect]
     Active Substance: CLOZAPINE
     Route: 048
     Dates: start: 20191209, end: 20191223
  952. CLOZARIL [Suspect]
     Active Substance: CLOZAPINE
     Dates: start: 2011
  953. CLOZARIL [Suspect]
     Active Substance: CLOZAPINE
     Indication: Schizophrenia
     Route: 048
     Dates: start: 20191209, end: 20191223
  954. CLOZARIL [Suspect]
     Active Substance: CLOZAPINE
     Indication: Schizophrenia
     Route: 048
     Dates: start: 20200521
  955. CLOZARIL [Suspect]
     Active Substance: CLOZAPINE
     Dates: start: 20200521
  956. CLOZARIL [Suspect]
     Active Substance: CLOZAPINE
     Route: 048
     Dates: start: 20191207, end: 20191223
  957. CLOZARIL [Suspect]
     Active Substance: CLOZAPINE
     Route: 048
     Dates: start: 20191223, end: 20191223
  958. CLOZARIL [Suspect]
     Active Substance: CLOZAPINE
     Dates: start: 20200521
  959. CLOZARIL [Suspect]
     Active Substance: CLOZAPINE
     Route: 048
     Dates: start: 20210823
  960. CLOZARIL [Suspect]
     Active Substance: CLOZAPINE
     Route: 048
     Dates: start: 20191223, end: 20191223
  961. CLOZARIL [Suspect]
     Active Substance: CLOZAPINE
     Route: 048
     Dates: start: 20201207
  962. CLOZARIL [Suspect]
     Active Substance: CLOZAPINE
     Dates: start: 20201207
  963. CLOZARIL [Suspect]
     Active Substance: CLOZAPINE
     Route: 048
  964. CLOZARIL [Suspect]
     Active Substance: CLOZAPINE
     Dates: start: 20191209, end: 20191223
  965. CLOZARIL [Suspect]
     Active Substance: CLOZAPINE
     Dates: start: 20191223, end: 20191223
  966. CLOZARIL [Suspect]
     Active Substance: CLOZAPINE
     Route: 048
     Dates: start: 2021
  967. CLOZARIL [Suspect]
     Active Substance: CLOZAPINE
     Route: 048
     Dates: start: 20191209
  968. CLOZARIL [Suspect]
     Active Substance: CLOZAPINE
     Route: 048
     Dates: start: 2020
  969. CLOZARIL [Suspect]
     Active Substance: CLOZAPINE
     Route: 048
     Dates: start: 20201207
  970. CLOZARIL [Suspect]
     Active Substance: CLOZAPINE
     Route: 048
     Dates: start: 2011
  971. CLOZARIL [Suspect]
     Active Substance: CLOZAPINE
     Route: 048
     Dates: start: 20191223
  972. CLOZARIL [Suspect]
     Active Substance: CLOZAPINE
     Route: 048
     Dates: start: 20200521, end: 2021
  973. CLOZARIL [Suspect]
     Active Substance: CLOZAPINE
     Route: 048
  974. CLOZARIL [Suspect]
     Active Substance: CLOZAPINE
     Route: 048
     Dates: start: 20201207
  975. CLOZARIL [Suspect]
     Active Substance: CLOZAPINE
     Route: 048
     Dates: start: 20191223, end: 20191223
  976. CLOZARIL [Suspect]
     Active Substance: CLOZAPINE
     Route: 048
     Dates: start: 20191219, end: 20191223
  977. CLOZARIL [Suspect]
     Active Substance: CLOZAPINE
     Route: 048
     Dates: start: 20201207
  978. CLOZARIL [Suspect]
     Active Substance: CLOZAPINE
     Route: 048
     Dates: start: 20191223
  979. CLOZARIL [Suspect]
     Active Substance: CLOZAPINE
  980. CLOZARIL [Suspect]
     Active Substance: CLOZAPINE
     Route: 048
  981. CLOZARIL [Suspect]
     Active Substance: CLOZAPINE
     Route: 048
     Dates: start: 20191209, end: 20191223
  982. CLOZARIL [Suspect]
     Active Substance: CLOZAPINE
     Route: 048
     Dates: start: 20191209
  983. CLOZARIL [Suspect]
     Active Substance: CLOZAPINE
     Dates: start: 20191207
  984. CLOZARIL [Suspect]
     Active Substance: CLOZAPINE
     Route: 048
     Dates: start: 20200521
  985. CLOZARIL [Suspect]
     Active Substance: CLOZAPINE
     Route: 048
     Dates: start: 20100823
  986. CLOZARIL [Suspect]
     Active Substance: CLOZAPINE
  987. CLOZARIL [Suspect]
     Active Substance: CLOZAPINE
     Dates: start: 20191223, end: 20191223
  988. CLOZARIL [Suspect]
     Active Substance: CLOZAPINE
  989. CLOZARIL [Suspect]
     Active Substance: CLOZAPINE
  990. CLOZARIL [Suspect]
     Active Substance: CLOZAPINE
     Route: 048
  991. CLOZARIL [Suspect]
     Active Substance: CLOZAPINE
     Indication: Schizophrenia
     Route: 048
     Dates: start: 20100823
  992. CLOZARIL [Suspect]
     Active Substance: CLOZAPINE
     Route: 048
     Dates: start: 20100823
  993. CLOZARIL [Suspect]
     Active Substance: CLOZAPINE
     Route: 065
     Dates: start: 20100823, end: 20100823
  994. CLOZARIL [Suspect]
     Active Substance: CLOZAPINE
     Route: 048
     Dates: start: 20100823
  995. CLOZARIL [Suspect]
     Active Substance: CLOZAPINE
     Route: 048
     Dates: start: 20100823, end: 20200823
  996. CLOZARIL [Suspect]
     Active Substance: CLOZAPINE
     Route: 048
     Dates: start: 20100823, end: 20100823
  997. CLOZARIL [Suspect]
     Active Substance: CLOZAPINE
     Route: 048
     Dates: start: 20100823
  998. CLOZARIL [Suspect]
     Active Substance: CLOZAPINE
     Route: 065
     Dates: start: 2011
  999. CLOZARIL [Suspect]
     Active Substance: CLOZAPINE
     Route: 065
     Dates: start: 2011
  1000. CLOZARIL [Suspect]
     Active Substance: CLOZAPINE
     Route: 065
     Dates: start: 20191207, end: 20191223
  1001. CLOZARIL [Suspect]
     Active Substance: CLOZAPINE
     Route: 048
     Dates: start: 20191209
  1002. CLOZARIL [Suspect]
     Active Substance: CLOZAPINE
     Route: 048
     Dates: start: 20191209, end: 20191223
  1003. CLOZARIL [Suspect]
     Active Substance: CLOZAPINE
     Route: 048
     Dates: start: 20191209, end: 20191223
  1004. CLOZARIL [Suspect]
     Active Substance: CLOZAPINE
     Route: 048
     Dates: start: 20191209, end: 20191223
  1005. CLOZARIL [Suspect]
     Active Substance: CLOZAPINE
     Route: 065
     Dates: start: 20191209, end: 20191223
  1006. CLOZARIL [Suspect]
     Active Substance: CLOZAPINE
     Route: 048
     Dates: start: 20191209, end: 20191223
  1007. CLOZARIL [Suspect]
     Active Substance: CLOZAPINE
     Route: 048
     Dates: start: 20191223, end: 20191223
  1008. CLOZARIL [Suspect]
     Active Substance: CLOZAPINE
     Route: 048
     Dates: start: 20191223, end: 20191223
  1009. CLOZARIL [Suspect]
     Active Substance: CLOZAPINE
     Route: 048
     Dates: start: 20200521
  1010. CLOZARIL [Suspect]
     Active Substance: CLOZAPINE
     Route: 065
     Dates: start: 20200521
  1011. CLOZARIL [Suspect]
     Active Substance: CLOZAPINE
     Route: 048
     Dates: start: 20200521, end: 2020
  1012. CLOZARIL [Suspect]
     Active Substance: CLOZAPINE
     Route: 048
     Dates: start: 20200521
  1013. CLOZARIL [Suspect]
     Active Substance: CLOZAPINE
     Route: 065
     Dates: start: 20200521
  1014. CLOZARIL [Suspect]
     Active Substance: CLOZAPINE
     Route: 065
  1015. CLOZARIL [Suspect]
     Active Substance: CLOZAPINE
     Route: 065
  1016. CLOZARIL [Suspect]
     Active Substance: CLOZAPINE
     Route: 048
     Dates: start: 20200521, end: 2020
  1017. CLOZARIL [Suspect]
     Active Substance: CLOZAPINE
     Route: 048
     Dates: start: 20200521
  1018. CLOZARIL [Suspect]
     Active Substance: CLOZAPINE
     Route: 048
     Dates: start: 20200521, end: 2021
  1019. CLOZARIL [Suspect]
     Active Substance: CLOZAPINE
     Route: 048
     Dates: start: 20200521
  1020. CLOZARIL [Suspect]
     Active Substance: CLOZAPINE
     Route: 048
     Dates: start: 20200521
  1021. CLOZARIL [Suspect]
     Active Substance: CLOZAPINE
     Route: 048
     Dates: start: 20200521, end: 2020
  1022. CLOZARIL [Suspect]
     Active Substance: CLOZAPINE
     Route: 065
     Dates: start: 20201207
  1023. CLOZARIL [Suspect]
     Active Substance: CLOZAPINE
     Route: 048
     Dates: start: 20201207
  1024. CLOZARIL [Suspect]
     Active Substance: CLOZAPINE
     Route: 048
     Dates: start: 20201207
  1025. CLOZARIL [Suspect]
     Active Substance: CLOZAPINE
     Route: 048
     Dates: start: 20201207
  1026. CLOZARIL [Suspect]
     Active Substance: CLOZAPINE
     Route: 048
     Dates: start: 20201207
  1027. CLOZARIL [Suspect]
     Active Substance: CLOZAPINE
     Route: 065
  1028. CLOZARIL [Suspect]
     Active Substance: CLOZAPINE
     Route: 048
  1029. CLOZARIL [Suspect]
     Active Substance: CLOZAPINE
     Route: 048
     Dates: end: 20191223
  1030. CLOZARIL [Suspect]
     Active Substance: CLOZAPINE
     Route: 050
  1031. CLOZARIL [Suspect]
     Active Substance: CLOZAPINE
     Route: 048
  1032. CLOZARIL [Suspect]
     Active Substance: CLOZAPINE
     Route: 065
  1033. CLOZARIL [Suspect]
     Active Substance: CLOZAPINE
     Route: 048
     Dates: end: 20220719
  1034. CLOZARIL [Suspect]
     Active Substance: CLOZAPINE
     Route: 065
     Dates: start: 20200521
  1035. CLOZARIL [Suspect]
     Active Substance: CLOZAPINE
     Route: 065
     Dates: start: 20191209, end: 20191223
  1036. CLOZARIL [Suspect]
     Active Substance: CLOZAPINE
     Dates: start: 2011
  1037. CLOZARIL [Suspect]
     Active Substance: CLOZAPINE
     Route: 048
     Dates: start: 20100823
  1038. CLOZARIL [Suspect]
     Active Substance: CLOZAPINE
     Route: 048
     Dates: start: 20191223, end: 20191223
  1039. CLOZARIL [Suspect]
     Active Substance: CLOZAPINE
     Route: 048
     Dates: start: 20201207
  1040. CLOZARIL [Suspect]
     Active Substance: CLOZAPINE
  1041. CLOZARIL [Suspect]
     Active Substance: CLOZAPINE
     Indication: Schizophrenia
  1042. CLOZARIL [Suspect]
     Active Substance: CLOZAPINE
  1043. CLOZARIL [Suspect]
     Active Substance: CLOZAPINE
     Route: 050
     Dates: start: 20200521
  1044. CLOZARIL [Suspect]
     Active Substance: CLOZAPINE
     Route: 048
     Dates: start: 20191207
  1045. CLOZARIL [Suspect]
     Active Substance: CLOZAPINE
     Route: 050
     Dates: start: 20100823, end: 20100823
  1046. CLOZARIL [Suspect]
     Active Substance: CLOZAPINE
     Route: 050
  1047. CLOZARIL [Suspect]
     Active Substance: CLOZAPINE
     Route: 050
  1048. CLOZARIL [Suspect]
     Active Substance: CLOZAPINE
     Route: 050
     Dates: start: 20201207
  1049. CLOZARIL [Suspect]
     Active Substance: CLOZAPINE
     Route: 048
     Dates: start: 20201207
  1050. CLOZARIL [Suspect]
     Active Substance: CLOZAPINE
     Route: 048
     Dates: start: 20200521, end: 20200521
  1051. CLOZARIL [Suspect]
     Active Substance: CLOZAPINE
     Route: 048
     Dates: start: 2011
  1052. CLOZARIL [Suspect]
     Active Substance: CLOZAPINE
     Route: 048
     Dates: start: 20191223, end: 20191223
  1053. CLOZARIL [Suspect]
     Active Substance: CLOZAPINE
     Route: 048
     Dates: start: 20190823, end: 20190823
  1054. CLOZARIL [Suspect]
     Active Substance: CLOZAPINE
     Route: 050
     Dates: start: 20201207
  1055. CLOZARIL [Suspect]
     Active Substance: CLOZAPINE
     Route: 048
     Dates: start: 20191223, end: 20191223
  1056. CLOZARIL [Suspect]
     Active Substance: CLOZAPINE
     Route: 048
     Dates: start: 20191209, end: 20191223
  1057. CLOZARIL [Suspect]
     Active Substance: CLOZAPINE
     Route: 050
     Dates: start: 20201207
  1058. CLOZARIL [Suspect]
     Active Substance: CLOZAPINE
     Route: 048
     Dates: start: 20201209, end: 20201223
  1059. CLOZARIL [Suspect]
     Active Substance: CLOZAPINE
     Route: 048
     Dates: start: 20190809, end: 20190823
  1060. CLOZARIL [Suspect]
     Active Substance: CLOZAPINE
     Route: 048
     Dates: start: 20191207
  1061. CLOZARIL [Suspect]
     Active Substance: CLOZAPINE
     Route: 048
     Dates: start: 2011
  1062. CLOZARIL [Suspect]
     Active Substance: CLOZAPINE
     Route: 050
     Dates: start: 20220719
  1063. CLOZARIL [Suspect]
     Active Substance: CLOZAPINE
     Route: 048
     Dates: start: 2011
  1064. CLOZARIL [Suspect]
     Active Substance: CLOZAPINE
     Route: 048
     Dates: start: 20190823, end: 20190823
  1065. CLOZARIL [Suspect]
     Active Substance: CLOZAPINE
     Route: 048
     Dates: start: 20191209, end: 20191223
  1066. CLOZARIL [Suspect]
     Active Substance: CLOZAPINE
     Route: 048
     Dates: start: 20191207, end: 20191223
  1067. CLOZARIL [Suspect]
     Active Substance: CLOZAPINE
     Route: 048
     Dates: start: 2021
  1068. CLOZARIL [Suspect]
     Active Substance: CLOZAPINE
     Route: 065
  1069. CLOZARIL [Suspect]
     Active Substance: CLOZAPINE
     Route: 048
     Dates: start: 20191223, end: 20191223
  1070. CLOZARIL [Suspect]
     Active Substance: CLOZAPINE
     Route: 048
     Dates: start: 20191223, end: 20191223
  1071. CLOZARIL [Suspect]
     Active Substance: CLOZAPINE
     Route: 048
     Dates: start: 20200207
  1072. CLOZARIL [Suspect]
     Active Substance: CLOZAPINE
     Route: 048
     Dates: start: 20200521, end: 2021
  1073. CLOZARIL [Suspect]
     Active Substance: CLOZAPINE
     Route: 048
     Dates: start: 20100823
  1074. CLOZARIL [Suspect]
     Active Substance: CLOZAPINE
     Route: 050
  1075. CLOZARIL [Suspect]
     Active Substance: CLOZAPINE
     Route: 065
     Dates: start: 20100823
  1076. CLOZARIL [Suspect]
     Active Substance: CLOZAPINE
     Route: 050
  1077. CLOZARIL [Suspect]
     Active Substance: CLOZAPINE
     Route: 048
     Dates: start: 20201223, end: 20201223
  1078. CLOZARIL [Suspect]
     Active Substance: CLOZAPINE
     Route: 048
     Dates: start: 20200521
  1079. CLOZARIL [Suspect]
     Active Substance: CLOZAPINE
     Route: 048
     Dates: start: 20191209, end: 20191223
  1080. CLOZARIL [Suspect]
     Active Substance: CLOZAPINE
     Route: 048
     Dates: end: 20200521
  1081. CLOZARIL [Suspect]
     Active Substance: CLOZAPINE
     Route: 050
  1082. CLOZARIL [Suspect]
     Active Substance: CLOZAPINE
     Route: 050
  1083. CLOZARIL [Suspect]
     Active Substance: CLOZAPINE
     Route: 050
     Dates: start: 20191209, end: 20191223
  1084. CLOZARIL [Suspect]
     Active Substance: CLOZAPINE
     Route: 050
     Dates: start: 20200521
  1085. CLOZARIL [Suspect]
     Active Substance: CLOZAPINE
     Route: 048
     Dates: start: 20191209, end: 20191223
  1086. CLOZARIL [Suspect]
     Active Substance: CLOZAPINE
     Route: 048
     Dates: start: 20100823
  1087. CLOZARIL [Suspect]
     Active Substance: CLOZAPINE
     Route: 048
     Dates: start: 20200207
  1088. CLOZARIL [Suspect]
     Active Substance: CLOZAPINE
     Route: 048
     Dates: start: 20191209, end: 20191223
  1089. CLOZARIL [Suspect]
     Active Substance: CLOZAPINE
     Dates: start: 2011
  1090. DOCETAXEL [Suspect]
     Active Substance: DOCETAXEL
     Indication: Breast cancer metastatic
     Dates: start: 20151222
  1091. DOCETAXEL [Suspect]
     Active Substance: DOCETAXEL
     Dosage: 110 MILLIGRAM, Q3W (CUMULATIVE DOSE: 324.98)/30-SEP-2015
     Route: 042
     Dates: start: 20150930, end: 20151021
  1092. DOCETAXEL [Suspect]
     Active Substance: DOCETAXEL
     Route: 042
     Dates: start: 20150930, end: 20151021
  1093. DOCETAXEL [Suspect]
     Active Substance: DOCETAXEL
     Route: 065
     Dates: start: 20150930, end: 20151021
  1094. DOCETAXEL [Suspect]
     Active Substance: DOCETAXEL
     Route: 065
  1095. DOCETAXEL [Suspect]
     Active Substance: DOCETAXEL
     Route: 065
     Dates: start: 20151222
  1096. DOCETAXEL [Suspect]
     Active Substance: DOCETAXEL
     Route: 065
     Dates: start: 20151222
  1097. DOCETAXEL [Suspect]
     Active Substance: DOCETAXEL
     Route: 065
     Dates: start: 20151222
  1098. DOCETAXEL [Suspect]
     Active Substance: DOCETAXEL
     Route: 065
  1099. DOCETAXEL [Suspect]
     Active Substance: DOCETAXEL
     Route: 065
     Dates: start: 20151222
  1100. DOCETAXEL [Suspect]
     Active Substance: DOCETAXEL
     Route: 065
     Dates: start: 20150930, end: 20151021
  1101. DOCETAXEL [Suspect]
     Active Substance: DOCETAXEL
     Route: 065
     Dates: start: 20150930, end: 20151021
  1102. DOCETAXEL [Suspect]
     Active Substance: DOCETAXEL
  1103. DOCETAXEL [Suspect]
     Active Substance: DOCETAXEL
     Dates: start: 20150930, end: 20151021
  1104. DOCETAXEL [Suspect]
     Active Substance: DOCETAXEL
     Route: 065
  1105. DOCETAXEL [Suspect]
     Active Substance: DOCETAXEL
     Dates: start: 201509
  1106. DOCETAXEL [Suspect]
     Active Substance: DOCETAXEL
     Dosage: 220 MG, QW
     Dates: start: 20151222
  1107. DOCETAXEL [Suspect]
     Active Substance: DOCETAXEL
     Indication: Breast cancer metastatic
     Route: 065
  1108. DOCETAXEL [Suspect]
     Active Substance: DOCETAXEL
  1109. DOCETAXEL [Suspect]
     Active Substance: DOCETAXEL
     Route: 065
     Dates: start: 20151222
  1110. DOCETAXEL [Suspect]
     Active Substance: DOCETAXEL
     Dates: start: 20150930, end: 20151021
  1111. DOCETAXEL [Suspect]
     Active Substance: DOCETAXEL
     Route: 050
     Dates: start: 20151222
  1112. DOCETAXEL [Suspect]
     Active Substance: DOCETAXEL
     Route: 050
     Dates: start: 20150930, end: 20151021
  1113. DOCETAXEL [Suspect]
     Active Substance: DOCETAXEL
     Dates: start: 20150930, end: 20151021
  1114. DOCETAXEL [Suspect]
     Active Substance: DOCETAXEL
     Route: 050
  1115. DOCETAXEL [Suspect]
     Active Substance: DOCETAXEL
     Route: 050
  1116. RISPERDAL [Suspect]
     Active Substance: RISPERIDONE
     Indication: Schizophrenia
     Route: 048
  1117. RISPERDAL [Suspect]
     Active Substance: RISPERIDONE
     Indication: Schizophrenia
     Route: 065
  1118. RISPERDAL [Suspect]
     Active Substance: RISPERIDONE
     Route: 048
  1119. RISPERDAL [Suspect]
     Active Substance: RISPERIDONE
     Route: 048
  1120. RISPERDAL [Suspect]
     Active Substance: RISPERIDONE
     Route: 048
  1121. RISPERDAL [Suspect]
     Active Substance: RISPERIDONE
     Route: 048
  1122. RISPERDAL [Suspect]
     Active Substance: RISPERIDONE
  1123. RISPERDAL [Suspect]
     Active Substance: RISPERIDONE
     Route: 048
  1124. RISPERDAL [Suspect]
     Active Substance: RISPERIDONE
     Route: 048
  1125. RISPERDAL [Suspect]
     Active Substance: RISPERIDONE
     Route: 065
  1126. RISPERDAL [Suspect]
     Active Substance: RISPERIDONE
  1127. RISPERDAL [Suspect]
     Active Substance: RISPERIDONE
     Route: 048
  1128. RISPERDAL [Suspect]
     Active Substance: RISPERIDONE
  1129. RISPERDAL [Suspect]
     Active Substance: RISPERIDONE
  1130. RISPERDAL [Suspect]
     Active Substance: RISPERIDONE
  1131. RISPERDAL [Suspect]
     Active Substance: RISPERIDONE
  1132. RISPERDAL [Suspect]
     Active Substance: RISPERIDONE
  1133. RISPERDAL [Suspect]
     Active Substance: RISPERIDONE
  1134. RISPERDAL [Suspect]
     Active Substance: RISPERIDONE
  1135. RISPERDAL [Suspect]
     Active Substance: RISPERIDONE
  1136. RISPERDAL [Suspect]
     Active Substance: RISPERIDONE
  1137. RISPERDAL [Suspect]
     Active Substance: RISPERIDONE
  1138. RISPERDAL [Suspect]
     Active Substance: RISPERIDONE
     Route: 048
  1139. RISPERDAL [Suspect]
     Active Substance: RISPERIDONE
  1140. RISPERDAL [Suspect]
     Active Substance: RISPERIDONE
     Route: 048
  1141. RISPERDAL [Suspect]
     Active Substance: RISPERIDONE
     Route: 048
  1142. RISPERDAL [Suspect]
     Active Substance: RISPERIDONE
     Route: 048
  1143. RISPERDAL [Suspect]
     Active Substance: RISPERIDONE
     Route: 048
  1144. RISPERDAL [Suspect]
     Active Substance: RISPERIDONE
     Route: 065
  1145. RISPERDAL [Suspect]
     Active Substance: RISPERIDONE
     Route: 048
  1146. RISPERDAL [Suspect]
     Active Substance: RISPERIDONE
     Route: 048
  1147. RISPERDAL [Suspect]
     Active Substance: RISPERIDONE
     Route: 048
  1148. RISPERDAL [Suspect]
     Active Substance: RISPERIDONE
     Route: 048
  1149. RISPERDAL [Suspect]
     Active Substance: RISPERIDONE
     Route: 048
  1150. RISPERDAL [Suspect]
     Active Substance: RISPERIDONE
     Route: 048
  1151. RISPERDAL [Suspect]
     Active Substance: RISPERIDONE
     Route: 048
  1152. RISPERDAL [Suspect]
     Active Substance: RISPERIDONE
     Route: 048
  1153. RISPERDAL [Suspect]
     Active Substance: RISPERIDONE
     Route: 048
  1154. RISPERDAL [Suspect]
     Active Substance: RISPERIDONE
  1155. RISPERDAL [Suspect]
     Active Substance: RISPERIDONE
  1156. RISPERDAL [Suspect]
     Active Substance: RISPERIDONE
  1157. RISPERDAL [Suspect]
     Active Substance: RISPERIDONE
  1158. RISPERDAL [Suspect]
     Active Substance: RISPERIDONE
  1159. RISPERDAL [Suspect]
     Active Substance: RISPERIDONE
     Route: 048
  1160. RISPERDAL [Suspect]
     Active Substance: RISPERIDONE
     Route: 048
  1161. RISPERDAL [Suspect]
     Active Substance: RISPERIDONE
  1162. RISPERDAL [Suspect]
     Active Substance: RISPERIDONE
  1163. RISPERDAL [Suspect]
     Active Substance: RISPERIDONE
  1164. RISPERDAL [Suspect]
     Active Substance: RISPERIDONE
     Route: 048
  1165. RISPERDAL [Suspect]
     Active Substance: RISPERIDONE
  1166. RISPERIDONE [Suspect]
     Active Substance: RISPERIDONE
     Indication: Schizophrenia
  1167. RISPERIDONE [Suspect]
     Active Substance: RISPERIDONE
     Route: 048
  1168. RISPERIDONE [Suspect]
     Active Substance: RISPERIDONE
     Route: 048
  1169. RISPERIDONE [Suspect]
     Active Substance: RISPERIDONE
     Route: 048
  1170. RISPERIDONE [Suspect]
     Active Substance: RISPERIDONE
     Route: 048
  1171. RISPERIDONE [Suspect]
     Active Substance: RISPERIDONE
     Route: 048
  1172. RISPERIDONE [Suspect]
     Active Substance: RISPERIDONE
     Route: 048
  1173. RISPERIDONE [Suspect]
     Active Substance: RISPERIDONE
     Route: 048
  1174. RISPERIDONE [Suspect]
     Active Substance: RISPERIDONE
     Route: 048
  1175. RISPERIDONE [Suspect]
     Active Substance: RISPERIDONE
     Route: 048
  1176. RISPERIDONE [Suspect]
     Active Substance: RISPERIDONE
     Route: 048
  1177. RISPERIDONE [Suspect]
     Active Substance: RISPERIDONE
     Route: 065
  1178. RISPERIDONE [Suspect]
     Active Substance: RISPERIDONE
     Route: 065
  1179. RISPERIDONE [Suspect]
     Active Substance: RISPERIDONE
     Route: 065
  1180. RISPERIDONE [Suspect]
     Active Substance: RISPERIDONE
     Route: 065
  1181. RISPERIDONE [Suspect]
     Active Substance: RISPERIDONE
     Route: 048
  1182. RISPERIDONE [Suspect]
     Active Substance: RISPERIDONE
     Route: 048
  1183. RISPERIDONE [Suspect]
     Active Substance: RISPERIDONE
  1184. ZUCLOPENTHIXOL [Suspect]
     Active Substance: ZUCLOPENTHIXOL
     Indication: Product used for unknown indication
     Dosage: 400 MILLIGRAM, QWK (ADDITIONAL INFO: OFF LABEL USE) (ADDITIONAL INFORMATION ON DRUG (FREE TEXT): CLO
     Route: 048
     Dates: start: 20040217, end: 20040601
  1185. ZUCLOPENTHIXOL [Suspect]
     Active Substance: ZUCLOPENTHIXOL
     Route: 048
     Dates: start: 20040217, end: 20040601
  1186. ZUCLOPENTHIXOL [Suspect]
     Active Substance: ZUCLOPENTHIXOL
     Dosage: 300 MG, QW/ 300 MILLIGRAM, QWK (ADDITIONAL INFORMATION ON DRUG (FREE TEXT): CLOZARIL, ADDITIONAL INF
     Route: 048
     Dates: start: 20091018
  1187. ZUCLOPENTHIXOL [Suspect]
     Active Substance: ZUCLOPENTHIXOL
     Dosage: 300 MG, QW
     Route: 065
  1188. ZUCLOPENTHIXOL [Suspect]
     Active Substance: ZUCLOPENTHIXOL
     Dosage: 800 MG, QW/ 800 MILLIGRAM, QWK (ADDITIONAL INFORMATION ON DRUG (FREE TEXT): CLOZARIL, ADDITIONAL INF
     Route: 048
     Dates: start: 20030204, end: 20040217
  1189. ZUCLOPENTHIXOL [Suspect]
     Active Substance: ZUCLOPENTHIXOL
     Dosage: 800 MG, QW
     Dates: start: 20041018
  1190. ZUCLOPENTHIXOL [Suspect]
     Active Substance: ZUCLOPENTHIXOL
     Route: 030
     Dates: start: 20091009
  1191. OLANZAPINE [Suspect]
     Active Substance: OLANZAPINE
     Indication: Schizophrenia
     Route: 048
     Dates: start: 20040217
  1192. OLANZAPINE [Suspect]
     Active Substance: OLANZAPINE
     Indication: Schizophrenia
     Route: 048
  1193. OLANZAPINE [Suspect]
     Active Substance: OLANZAPINE
     Route: 048
     Dates: start: 20060704
  1194. OLANZAPINE [Suspect]
     Active Substance: OLANZAPINE
     Route: 048
     Dates: start: 20080823
  1195. OLANZAPINE [Suspect]
     Active Substance: OLANZAPINE
     Route: 048
     Dates: start: 20040217
  1196. OLANZAPINE [Suspect]
     Active Substance: OLANZAPINE
     Route: 048
  1197. OLANZAPINE [Suspect]
     Active Substance: OLANZAPINE
     Route: 048
  1198. OLANZAPINE [Suspect]
     Active Substance: OLANZAPINE
     Route: 048
  1199. OLANZAPINE [Suspect]
     Active Substance: OLANZAPINE
     Route: 065
  1200. OLANZAPINE [Suspect]
     Active Substance: OLANZAPINE
     Route: 048
  1201. OLANZAPINE [Suspect]
     Active Substance: OLANZAPINE
  1202. OLANZAPINE [Suspect]
     Active Substance: OLANZAPINE
  1203. OLANZAPINE [Suspect]
     Active Substance: OLANZAPINE
  1204. OLANZAPINE [Suspect]
     Active Substance: OLANZAPINE
  1205. OLANZAPINE [Suspect]
     Active Substance: OLANZAPINE
  1206. OLANZAPINE [Suspect]
     Active Substance: OLANZAPINE
  1207. OLANZAPINE [Suspect]
     Active Substance: OLANZAPINE
  1208. OLANZAPINE [Suspect]
     Active Substance: OLANZAPINE
  1209. OLANZAPINE [Suspect]
     Active Substance: OLANZAPINE
  1210. OLANZAPINE [Suspect]
     Active Substance: OLANZAPINE
  1211. CALCIUM\CHOLECALCIFEROL [Concomitant]
     Active Substance: CALCIUM\CHOLECALCIFEROL
     Indication: Product used for unknown indication
     Route: 065
     Dates: start: 20091018
  1212. CALCIUM\CHOLECALCIFEROL [Concomitant]
     Active Substance: CALCIUM\CHOLECALCIFEROL
     Route: 048
     Dates: start: 20091018
  1213. CALCIUM\CHOLECALCIFEROL [Concomitant]
     Active Substance: CALCIUM\CHOLECALCIFEROL
  1214. MORPHINE SULFATE [Concomitant]
     Active Substance: MORPHINE SULFATE
     Indication: Product used for unknown indication
     Route: 065
     Dates: start: 201509
  1215. MORPHINE SULFATE [Concomitant]
     Active Substance: MORPHINE SULFATE
     Dosage: 10 MG, 1/WEEK
     Route: 065
  1216. MORPHINE SULFATE [Concomitant]
     Active Substance: MORPHINE SULFATE
     Dates: start: 201510
  1217. MIRTAZAPINE [Concomitant]
     Active Substance: MIRTAZAPINE
     Indication: Product used for unknown indication
     Route: 048
     Dates: start: 201510
  1218. MORPHINE [Concomitant]
     Active Substance: MORPHINE
     Indication: Pain
     Route: 048
     Dates: start: 201510
  1219. MORPHINE [Concomitant]
     Active Substance: MORPHINE
     Route: 065
     Dates: start: 201509
  1220. MORPHINE [Concomitant]
     Active Substance: MORPHINE
     Route: 065
     Dates: start: 201509
  1221. MORPHINE [Concomitant]
     Active Substance: MORPHINE
     Route: 050
     Dates: start: 201509
  1222. MORPHINE [Concomitant]
     Active Substance: MORPHINE
     Route: 048
     Dates: start: 201509
  1223. MORPHINE [Concomitant]
     Active Substance: MORPHINE
     Route: 048
     Dates: start: 201509
  1224. MORPHINE [Concomitant]
     Active Substance: MORPHINE
     Route: 048
     Dates: start: 201509
  1225. MORPHINE [Concomitant]
     Active Substance: MORPHINE
     Route: 048
  1226. DENOSUMAB [Concomitant]
     Active Substance: DENOSUMAB
     Indication: Metastases to bone
     Route: 058
     Dates: start: 20150930
  1227. DENOSUMAB [Concomitant]
     Active Substance: DENOSUMAB
     Indication: Gastrooesophageal reflux disease
     Dates: start: 20150930
  1228. DENOSUMAB [Concomitant]
     Active Substance: DENOSUMAB
  1229. DENOSUMAB [Concomitant]
     Active Substance: DENOSUMAB
  1230. DULOXETINE [Concomitant]
     Active Substance: DULOXETINE
     Indication: Breast cancer metastatic
     Route: 042
     Dates: start: 20150930, end: 20151021
  1231. DULOXETINE [Concomitant]
     Active Substance: DULOXETINE
  1232. DULOXETINE [Concomitant]
     Active Substance: DULOXETINE
  1233. DULOXETINE [Concomitant]
     Active Substance: DULOXETINE
     Dosage: 110 MG, TIW (ADDITIONAL INFORMATION ON DRUG (FREE TEXT): CLOZARIL, ADDITIONAL INFO: OFF LABEL USE)
     Route: 042
     Dates: start: 20150930, end: 20151021
  1234. AMOXICILLIN\CLAVULANATE POTASSIUM [Concomitant]
     Active Substance: AMOXICILLIN\CLAVULANATE POTASSIUM
     Indication: Febrile neutropenia
     Dates: start: 20151122, end: 20151125
  1235. AMOXICILLIN\CLAVULANATE POTASSIUM [Concomitant]
     Active Substance: AMOXICILLIN\CLAVULANATE POTASSIUM
     Dates: start: 20151122
  1236. AMOXICILLIN\CLAVULANATE POTASSIUM [Concomitant]
     Active Substance: AMOXICILLIN\CLAVULANATE POTASSIUM
     Dates: start: 20151111
  1237. AMOXICILLIN\CLAVULANATE POTASSIUM [Concomitant]
     Active Substance: AMOXICILLIN\CLAVULANATE POTASSIUM
     Route: 065
     Dates: start: 20151122, end: 20151122
  1238. AMOXICILLIN\CLAVULANATE POTASSIUM [Concomitant]
     Active Substance: AMOXICILLIN\CLAVULANATE POTASSIUM
     Route: 048
     Dates: start: 20151122, end: 20151125
  1239. CLOZAPINE [Suspect]
     Active Substance: CLOZAPINE
     Indication: Schizophrenia
     Route: 048
  1240. CLOZAPINE [Suspect]
     Active Substance: CLOZAPINE
     Indication: Schizophrenia
     Route: 048
     Dates: start: 2011
  1241. CLOZAPINE [Suspect]
     Active Substance: CLOZAPINE
     Route: 048
     Dates: start: 2011
  1242. CLOZAPINE [Suspect]
     Active Substance: CLOZAPINE
     Route: 048
     Dates: start: 20200207
  1243. CLOZAPINE [Suspect]
     Active Substance: CLOZAPINE
     Route: 048
  1244. CLOZAPINE [Suspect]
     Active Substance: CLOZAPINE
     Route: 048
  1245. CLOZAPINE [Suspect]
     Active Substance: CLOZAPINE
     Route: 048
     Dates: start: 20191207, end: 20191223
  1246. CLOZAPINE [Suspect]
     Active Substance: CLOZAPINE
     Route: 048
  1247. CLOZAPINE [Suspect]
     Active Substance: CLOZAPINE
     Route: 048
  1248. CLOZAPINE [Suspect]
     Active Substance: CLOZAPINE
     Route: 048
  1249. CLOZAPINE [Suspect]
     Active Substance: CLOZAPINE
     Route: 048
     Dates: start: 20100823
  1250. CLOZAPINE [Suspect]
     Active Substance: CLOZAPINE
     Route: 048
  1251. CLOZAPINE [Suspect]
     Active Substance: CLOZAPINE
     Route: 048
     Dates: start: 20191223, end: 20191223
  1252. CLOZAPINE [Suspect]
     Active Substance: CLOZAPINE
     Route: 048
     Dates: start: 20190823, end: 20190823
  1253. CLOZAPINE [Suspect]
     Active Substance: CLOZAPINE
     Route: 048
  1254. CLOZAPINE [Suspect]
     Active Substance: CLOZAPINE
     Route: 048
  1255. CLOZAPINE [Suspect]
     Active Substance: CLOZAPINE
     Route: 048
     Dates: start: 20190809, end: 20190823
  1256. CLOZAPINE [Suspect]
     Active Substance: CLOZAPINE
     Route: 048
     Dates: start: 20191223, end: 20191223
  1257. CLOZAPINE [Suspect]
     Active Substance: CLOZAPINE
     Route: 048
     Dates: start: 20191223, end: 20191223
  1258. CLOZAPINE [Suspect]
     Active Substance: CLOZAPINE
     Route: 048
  1259. CLOZAPINE [Suspect]
     Active Substance: CLOZAPINE
     Route: 048
     Dates: start: 20201223, end: 20201223
  1260. CLOZAPINE [Suspect]
     Active Substance: CLOZAPINE
     Route: 048
  1261. CLOZAPINE [Suspect]
     Active Substance: CLOZAPINE
     Route: 048
     Dates: start: 2011
  1262. CLOZAPINE [Suspect]
     Active Substance: CLOZAPINE
     Route: 048
     Dates: end: 20200521
  1263. CLOZAPINE [Suspect]
     Active Substance: CLOZAPINE
     Route: 048
     Dates: start: 20200207
  1264. CLOZAPINE [Suspect]
     Active Substance: CLOZAPINE
     Route: 048
  1265. CLOZAPINE [Suspect]
     Active Substance: CLOZAPINE
     Route: 048
     Dates: start: 20190823, end: 20190823
  1266. CLOZAPINE [Suspect]
     Active Substance: CLOZAPINE
     Route: 048
  1267. CLOZAPINE [Suspect]
     Active Substance: CLOZAPINE
     Route: 048
     Dates: start: 2011
  1268. CLOZAPINE [Suspect]
     Active Substance: CLOZAPINE
     Route: 048
  1269. CLOZAPINE [Suspect]
     Active Substance: CLOZAPINE
     Route: 048
     Dates: end: 20191223
  1270. CLOZAPINE [Suspect]
     Active Substance: CLOZAPINE
     Route: 048
     Dates: start: 20200521, end: 20200521
  1271. CLOZAPINE [Suspect]
     Active Substance: CLOZAPINE
     Route: 048
  1272. CLOZAPINE [Suspect]
     Active Substance: CLOZAPINE
  1273. CLOZAPINE [Suspect]
     Active Substance: CLOZAPINE
     Dates: end: 20191223
  1274. CLOZAPINE [Suspect]
     Active Substance: CLOZAPINE
     Dates: start: 20191207, end: 20191223
  1275. CLOZAPINE [Suspect]
     Active Substance: CLOZAPINE
     Dates: start: 20191223
  1276. CLOZAPINE [Suspect]
     Active Substance: CLOZAPINE
     Dates: start: 20191223
  1277. CLOZAPINE [Suspect]
     Active Substance: CLOZAPINE
     Dates: start: 20200521
  1278. CLOZAPINE [Suspect]
     Active Substance: CLOZAPINE
     Dates: start: 20201209
  1279. CLOZAPINE [Suspect]
     Active Substance: CLOZAPINE
     Route: 048
     Dates: start: 20100823
  1280. CLOZAPINE [Suspect]
     Active Substance: CLOZAPINE
     Dates: start: 2011
  1281. CLOZAPINE [Suspect]
     Active Substance: CLOZAPINE
     Route: 048
     Dates: start: 20100823
  1282. CLOZAPINE [Suspect]
     Active Substance: CLOZAPINE
     Dates: start: 2011
  1283. CLOZAPINE [Suspect]
     Active Substance: CLOZAPINE
     Dates: start: 2011
  1284. CLOZAPINE [Suspect]
     Active Substance: CLOZAPINE
     Route: 048
     Dates: start: 20191209, end: 20191223
  1285. CLOZAPINE [Suspect]
     Active Substance: CLOZAPINE
     Route: 048
     Dates: start: 20200521
  1286. CLOZAPINE [Suspect]
     Active Substance: CLOZAPINE
  1287. CLOZAPINE [Suspect]
     Active Substance: CLOZAPINE
     Route: 048
     Dates: start: 20200521, end: 2020
  1288. CLOZAPINE [Suspect]
     Active Substance: CLOZAPINE
     Route: 048
     Dates: start: 20191209, end: 20191223
  1289. CLOZAPINE [Suspect]
     Active Substance: CLOZAPINE
     Indication: Schizophrenia
     Route: 048
     Dates: start: 20200521, end: 2021
  1290. CLOZAPINE [Suspect]
     Active Substance: CLOZAPINE
     Indication: Schizophrenia
     Route: 048
     Dates: start: 20191209, end: 20191223
  1291. CLOZAPINE [Suspect]
     Active Substance: CLOZAPINE
     Route: 048
     Dates: start: 20200521, end: 2020
  1292. CLOZAPINE [Suspect]
     Active Substance: CLOZAPINE
     Route: 048
     Dates: start: 20201207
  1293. CLOZAPINE [Suspect]
     Active Substance: CLOZAPINE
     Route: 048
     Dates: start: 20201223, end: 20201223
  1294. CLOZAPINE [Suspect]
     Active Substance: CLOZAPINE
     Dates: start: 20201207
  1295. CLOZAPINE [Suspect]
     Active Substance: CLOZAPINE
     Route: 048
     Dates: start: 20191209, end: 20191223
  1296. CLOZAPINE [Suspect]
     Active Substance: CLOZAPINE
     Route: 048
     Dates: start: 20191223, end: 20191223
  1297. CLOZAPINE [Suspect]
     Active Substance: CLOZAPINE
     Route: 048
     Dates: start: 20201209, end: 20201223
  1298. CLOZAPINE [Suspect]
     Active Substance: CLOZAPINE
     Route: 048
     Dates: start: 20200521
  1299. CLOZAPINE [Suspect]
     Active Substance: CLOZAPINE
     Dates: start: 20201207
  1300. CLOZAPINE [Suspect]
     Active Substance: CLOZAPINE
     Route: 048
     Dates: start: 20191209, end: 20191223
  1301. CLOZAPINE [Suspect]
     Active Substance: CLOZAPINE
     Dates: start: 20211209
  1302. CLOZAPINE [Suspect]
     Active Substance: CLOZAPINE
     Route: 048
     Dates: start: 20211223
  1303. CLOZAPINE [Suspect]
     Active Substance: CLOZAPINE
     Route: 048
     Dates: start: 20201207
  1304. CLOZAPINE [Suspect]
     Active Substance: CLOZAPINE
  1305. CLOZAPINE [Suspect]
     Active Substance: CLOZAPINE
     Route: 048
     Dates: start: 20191209, end: 20191223
  1306. CLOZAPINE [Suspect]
     Active Substance: CLOZAPINE
     Dates: start: 2011
  1307. CLOZAPINE [Suspect]
     Active Substance: CLOZAPINE
     Route: 048
     Dates: start: 20191207
  1308. CLOZAPINE [Suspect]
     Active Substance: CLOZAPINE
     Route: 048
     Dates: start: 20191223, end: 20191223
  1309. CLOZAPINE [Suspect]
     Active Substance: CLOZAPINE
     Route: 048
     Dates: start: 20200521
  1310. CLOZAPINE [Suspect]
     Active Substance: CLOZAPINE
     Route: 048
     Dates: start: 20201207
  1311. CLOZAPINE [Suspect]
     Active Substance: CLOZAPINE
     Route: 048
     Dates: start: 20201223, end: 20201223
  1312. CLOZAPINE [Suspect]
     Active Substance: CLOZAPINE
  1313. CLOZAPINE [Suspect]
     Active Substance: CLOZAPINE
  1314. CLOZAPINE [Suspect]
     Active Substance: CLOZAPINE
  1315. CLOZAPINE [Suspect]
     Active Substance: CLOZAPINE
  1316. CLOZAPINE [Suspect]
     Active Substance: CLOZAPINE
     Route: 048
     Dates: start: 20200521, end: 2020
  1317. CLOZAPINE [Suspect]
     Active Substance: CLOZAPINE
     Dates: start: 20191209, end: 20191223
  1318. CLOZAPINE [Suspect]
     Active Substance: CLOZAPINE
     Route: 048
     Dates: start: 20200521
  1319. CLOZAPINE [Suspect]
     Active Substance: CLOZAPINE
     Dates: start: 2011
  1320. CLOZAPINE [Suspect]
     Active Substance: CLOZAPINE
  1321. CLOZAPINE [Suspect]
     Active Substance: CLOZAPINE
  1322. CLOZAPINE [Suspect]
     Active Substance: CLOZAPINE
     Route: 048
     Dates: start: 20200521, end: 2020
  1323. CLOZAPINE [Suspect]
     Active Substance: CLOZAPINE
     Dates: start: 20191207, end: 20191223
  1324. CLOZAPINE [Suspect]
     Active Substance: CLOZAPINE
     Dates: start: 2011
  1325. CLOZAPINE [Suspect]
     Active Substance: CLOZAPINE
     Dates: start: 20100823, end: 20100823
  1326. CLOZAPINE [Suspect]
     Active Substance: CLOZAPINE
     Dates: start: 20200521
  1327. CLOZAPINE [Suspect]
     Active Substance: CLOZAPINE
     Dates: start: 20200521
  1328. CLOZAPINE [Suspect]
     Active Substance: CLOZAPINE
  1329. CLOZAPINE [Suspect]
     Active Substance: CLOZAPINE
  1330. CLOZAPINE [Suspect]
     Active Substance: CLOZAPINE
     Dates: start: 20201207
  1331. CLOZAPINE [Suspect]
     Active Substance: CLOZAPINE
     Route: 048
     Dates: start: 20200521
  1332. CLOZAPINE [Suspect]
     Active Substance: CLOZAPINE
     Dates: end: 20191223
  1333. CLOZAPINE [Suspect]
     Active Substance: CLOZAPINE
  1334. CLOZAPINE [Suspect]
     Active Substance: CLOZAPINE
     Dates: end: 20191223
  1335. CLOZAPINE [Suspect]
     Active Substance: CLOZAPINE
  1336. CLOZAPINE [Suspect]
     Active Substance: CLOZAPINE
     Dates: start: 20191223
  1337. CLOZAPINE [Suspect]
     Active Substance: CLOZAPINE
     Dates: start: 20200521
  1338. CLOZAPINE [Suspect]
     Active Substance: CLOZAPINE
  1339. CLOZAPINE [Suspect]
     Active Substance: CLOZAPINE
     Indication: Schizophrenia
     Dates: start: 20191223
  1340. CLOZAPINE [Suspect]
     Active Substance: CLOZAPINE
     Indication: Schizophrenia
     Dates: start: 20200521, end: 20200521
  1341. CLOZAPINE [Suspect]
     Active Substance: CLOZAPINE
     Dates: start: 20201209
  1342. CLOZAPINE [Suspect]
     Active Substance: CLOZAPINE
     Dates: start: 20191207, end: 20191223
  1343. CLOZAPINE [Suspect]
     Active Substance: CLOZAPINE
     Dates: end: 20191223
  1344. CLOZAPINE [Suspect]
     Active Substance: CLOZAPINE
  1345. CLOZAPINE [Suspect]
     Active Substance: CLOZAPINE
     Dates: end: 20191223
  1346. CLOZAPINE [Suspect]
     Active Substance: CLOZAPINE
     Dates: start: 20200521, end: 20200521
  1347. CLOZAPINE [Suspect]
     Active Substance: CLOZAPINE
     Dates: start: 20201209
  1348. CLOZAPINE [Suspect]
     Active Substance: CLOZAPINE
     Dates: start: 20200521
  1349. CLOZAPINE [Suspect]
     Active Substance: CLOZAPINE
  1350. CLOZAPINE [Suspect]
     Active Substance: CLOZAPINE
  1351. CLOZAPINE [Suspect]
     Active Substance: CLOZAPINE
     Dates: start: 20191207, end: 20191223
  1352. CLOZAPINE [Suspect]
     Active Substance: CLOZAPINE
     Dates: start: 20191223
  1353. CLOZAPINE [Suspect]
     Active Substance: CLOZAPINE
     Dates: start: 20191223
  1354. CLOZAPINE [Suspect]
     Active Substance: CLOZAPINE
     Route: 048
     Dates: start: 2011
  1355. CLOZAPINE [Suspect]
     Active Substance: CLOZAPINE
     Route: 048
  1356. CLOZAPINE [Suspect]
     Active Substance: CLOZAPINE
     Route: 048
  1357. CLOZAPINE [Suspect]
     Active Substance: CLOZAPINE
     Route: 048
  1358. CLOZAPINE [Suspect]
     Active Substance: CLOZAPINE
     Route: 048
     Dates: start: 20191209, end: 20191223
  1359. CLOZAPINE [Suspect]
     Active Substance: CLOZAPINE
     Route: 048
     Dates: start: 20220719
  1360. CLOZAPINE [Suspect]
     Active Substance: CLOZAPINE
     Route: 048
     Dates: start: 20191209, end: 20191223
  1361. CLOZAPINE [Suspect]
     Active Substance: CLOZAPINE
     Route: 048
     Dates: start: 20100823, end: 20200823
  1362. CLOZAPINE [Suspect]
     Active Substance: CLOZAPINE
     Route: 048
     Dates: start: 20201207
  1363. CLOZAPINE [Suspect]
     Active Substance: CLOZAPINE
     Route: 048
     Dates: start: 20191209
  1364. CLOZAPINE [Suspect]
     Active Substance: CLOZAPINE
     Route: 048
     Dates: start: 20191209, end: 20191223
  1365. CLOZAPINE [Suspect]
     Active Substance: CLOZAPINE
     Route: 048
  1366. CLOZAPINE [Suspect]
     Active Substance: CLOZAPINE
     Route: 048
     Dates: start: 20200521
  1367. CLOZAPINE [Suspect]
     Active Substance: CLOZAPINE
     Route: 048
     Dates: start: 20191209, end: 20191223
  1368. CLOZAPINE [Suspect]
     Active Substance: CLOZAPINE
     Route: 048
     Dates: start: 20191223, end: 20191223
  1369. CLOZAPINE [Suspect]
     Active Substance: CLOZAPINE
     Route: 048
     Dates: start: 20100823, end: 20100823
  1370. CLOZAPINE [Suspect]
     Active Substance: CLOZAPINE
     Route: 048
     Dates: start: 20200521
  1371. CLOZAPINE [Suspect]
     Active Substance: CLOZAPINE
     Route: 048
  1372. CLOZAPINE [Suspect]
     Active Substance: CLOZAPINE
     Route: 048
     Dates: start: 20191207
  1373. CLOZAPINE [Suspect]
     Active Substance: CLOZAPINE
     Route: 048
     Dates: start: 20200521, end: 2021
  1374. CLOZAPINE [Suspect]
     Active Substance: CLOZAPINE
     Route: 048
     Dates: start: 20201207
  1375. CLOZAPINE [Suspect]
     Active Substance: CLOZAPINE
     Route: 048
     Dates: start: 20200521
  1376. CLOZAPINE [Suspect]
     Active Substance: CLOZAPINE
     Route: 048
     Dates: start: 20191223, end: 20191223
  1377. CLOZAPINE [Suspect]
     Active Substance: CLOZAPINE
     Route: 048
     Dates: start: 20100823
  1378. CLOZAPINE [Suspect]
     Active Substance: CLOZAPINE
     Route: 048
     Dates: start: 20191209, end: 20191223
  1379. CLOZAPINE [Suspect]
     Active Substance: CLOZAPINE
     Route: 048
     Dates: start: 20100823
  1380. CLOZAPINE [Suspect]
     Active Substance: CLOZAPINE
     Route: 048
     Dates: start: 20200521
  1381. CLOZAPINE [Suspect]
     Active Substance: CLOZAPINE
     Route: 048
     Dates: start: 20100823
  1382. CLOZAPINE [Suspect]
     Active Substance: CLOZAPINE
     Route: 048
     Dates: start: 20201207
  1383. CLOZAPINE [Suspect]
     Active Substance: CLOZAPINE
     Route: 048
     Dates: start: 20100823
  1384. CLOZAPINE [Suspect]
     Active Substance: CLOZAPINE
     Route: 048
     Dates: start: 20191209, end: 20191223

REACTIONS (44)
  - Affective disorder [Fatal]
  - Alopecia [Fatal]
  - Cellulitis [Fatal]
  - COVID-19 [Fatal]
  - Delusion of grandeur [Fatal]
  - Diarrhoea [Fatal]
  - Disease progression [Fatal]
  - Dyspepsia [Fatal]
  - Extrapyramidal disorder [Fatal]
  - Extrapyramidal disorder [Fatal]
  - Fatigue [Fatal]
  - Fatigue [Fatal]
  - Fatigue [Fatal]
  - Hallucination, auditory [Fatal]
  - Hospitalisation [Fatal]
  - Leukocytosis [Fatal]
  - Leukocytosis [Fatal]
  - Leukocytosis [Fatal]
  - Leukopenia [Fatal]
  - Lymphocyte count abnormal [Fatal]
  - Lymphocyte count abnormal [Fatal]
  - Lymphocyte count decreased [Fatal]
  - Mucosal inflammation [Fatal]
  - Nausea [Fatal]
  - Neoplasm progression [Fatal]
  - Malignant neoplasm progression [Fatal]
  - Neuropathy peripheral [Fatal]
  - Neutropenia [Fatal]
  - Neutrophil count decreased [Fatal]
  - Neutrophil count increased [Fatal]
  - Platelet count decreased [Fatal]
  - Psychotic disorder [Fatal]
  - Rhinalgia [Fatal]
  - SARS-CoV-2 test positive [Fatal]
  - Schizophrenia [Fatal]
  - Seizure [Fatal]
  - Thrombocytopenia [Fatal]
  - Nasal discomfort [Fatal]
  - Incorrect dose administered [Fatal]
  - Intentional product misuse [Fatal]
  - Off label use [Fatal]
  - Off label use [Fatal]
  - Off label use [Fatal]
  - Overdose [Fatal]

NARRATIVE: CASE EVENT DATE: 20151101
